FAERS Safety Report 23830002 (Version 44)
Quarter: 2025Q3

REPORT INFORMATION
  Report Type: Spontaneous
  Country: CA (occurrence: CA)
  Receive Date: 20240508
  Receipt Date: 20250918
  Transmission Date: 20251021
  Serious: Yes (Death, Life-Threatening, Hospitalization, Disabling, Congenital Anomaly, Other)
  Sender: CELLTRION
  Company Number: CA-CELLTRION INC.-2022CA022527

PATIENT

DRUGS (1028)
  1. INFLIXIMAB [Suspect]
     Active Substance: INFLIXIMAB
     Indication: Rheumatoid arthritis
     Route: 042
  2. INFLIXIMAB [Suspect]
     Active Substance: INFLIXIMAB
     Route: 042
  3. INFLIXIMAB [Suspect]
     Active Substance: INFLIXIMAB
     Route: 042
  4. INFLIXIMAB [Suspect]
     Active Substance: INFLIXIMAB
     Route: 065
  5. INFLIXIMAB [Suspect]
     Active Substance: INFLIXIMAB
     Route: 042
  6. INFLIXIMAB [Suspect]
     Active Substance: INFLIXIMAB
     Route: 040
  7. INFLIXIMAB [Suspect]
     Active Substance: INFLIXIMAB
     Route: 040
  8. INFLIXIMAB [Suspect]
     Active Substance: INFLIXIMAB
     Route: 040
  9. INFLIXIMAB [Suspect]
     Active Substance: INFLIXIMAB
     Route: 042
  10. INFLIXIMAB [Suspect]
     Active Substance: INFLIXIMAB
     Route: 042
  11. INFLIXIMAB [Suspect]
     Active Substance: INFLIXIMAB
  12. INFLIXIMAB [Suspect]
     Active Substance: INFLIXIMAB
  13. INFLIXIMAB [Suspect]
     Active Substance: INFLIXIMAB
     Route: 040
  14. INFLIXIMAB [Suspect]
     Active Substance: INFLIXIMAB
     Route: 058
  15. INFLIXIMAB [Suspect]
     Active Substance: INFLIXIMAB
     Route: 065
  16. INFLIXIMAB [Suspect]
     Active Substance: INFLIXIMAB
     Route: 040
  17. INFLIXIMAB [Suspect]
     Active Substance: INFLIXIMAB
     Route: 040
  18. INFLIXIMAB [Suspect]
     Active Substance: INFLIXIMAB
     Route: 040
  19. INFLIXIMAB [Suspect]
     Active Substance: INFLIXIMAB
     Route: 065
  20. INFLIXIMAB [Suspect]
     Active Substance: INFLIXIMAB
     Route: 065
  21. ENBREL [Suspect]
     Active Substance: ETANERCEPT
     Indication: Rheumatoid arthritis
     Dates: start: 200503, end: 200602
  22. ENBREL [Suspect]
     Active Substance: ETANERCEPT
     Dosage: 10 MG, WEEKLY
  23. ENBREL [Suspect]
     Active Substance: ETANERCEPT
  24. ENBREL [Suspect]
     Active Substance: ETANERCEPT
     Dosage: 50 MG, WEEKLY
     Dates: start: 200503
  25. ENBREL [Suspect]
     Active Substance: ETANERCEPT
  26. ENBREL [Suspect]
     Active Substance: ETANERCEPT
  27. ENBREL [Suspect]
     Active Substance: ETANERCEPT
  28. ENBREL [Suspect]
     Active Substance: ETANERCEPT
  29. ENBREL [Suspect]
     Active Substance: ETANERCEPT
  30. ENBREL [Suspect]
     Active Substance: ETANERCEPT
  31. ENBREL [Suspect]
     Active Substance: ETANERCEPT
     Dosage: 10 MG, WEEKLY
  32. ENBREL [Suspect]
     Active Substance: ETANERCEPT
  33. ENBREL [Suspect]
     Active Substance: ETANERCEPT
     Dosage: 40 MG, WEEKLY
  34. ADALIMUMAB [Suspect]
     Active Substance: ADALIMUMAB
     Indication: Rheumatoid arthritis
     Route: 058
  35. ADALIMUMAB [Suspect]
     Active Substance: ADALIMUMAB
     Route: 058
  36. ADALIMUMAB [Suspect]
     Active Substance: ADALIMUMAB
     Dosage: 40 MG, WEEKLY
     Route: 058
  37. ADALIMUMAB [Suspect]
     Active Substance: ADALIMUMAB
     Route: 058
  38. ADALIMUMAB [Suspect]
     Active Substance: ADALIMUMAB
     Route: 058
  39. ADALIMUMAB [Suspect]
     Active Substance: ADALIMUMAB
     Route: 040
  40. ADALIMUMAB [Suspect]
     Active Substance: ADALIMUMAB
     Route: 040
  41. ADALIMUMAB [Suspect]
     Active Substance: ADALIMUMAB
     Route: 058
  42. ADALIMUMAB [Suspect]
     Active Substance: ADALIMUMAB
     Route: 058
  43. FOLIC ACID [Suspect]
     Active Substance: FOLIC ACID
  44. FOLIC ACID [Suspect]
     Active Substance: FOLIC ACID
  45. FOLIC ACID [Suspect]
     Active Substance: FOLIC ACID
  46. FOLIC ACID [Suspect]
     Active Substance: FOLIC ACID
  47. FOLIC ACID [Suspect]
     Active Substance: FOLIC ACID
  48. FOLIC ACID [Suspect]
     Active Substance: FOLIC ACID
  49. FOLIC ACID [Suspect]
     Active Substance: FOLIC ACID
  50. FOLIC ACID [Suspect]
     Active Substance: FOLIC ACID
  51. FOLIC ACID [Suspect]
     Active Substance: FOLIC ACID
  52. FOLIC ACID [Suspect]
     Active Substance: FOLIC ACID
  53. FOLIC ACID [Suspect]
     Active Substance: FOLIC ACID
  54. FOLIC ACID [Suspect]
     Active Substance: FOLIC ACID
  55. FOLIC ACID [Suspect]
     Active Substance: FOLIC ACID
  56. FOLIC ACID [Suspect]
     Active Substance: FOLIC ACID
  57. FOLIC ACID [Suspect]
     Active Substance: FOLIC ACID
  58. FOLIC ACID [Suspect]
     Active Substance: FOLIC ACID
  59. FOLIC ACID [Suspect]
     Active Substance: FOLIC ACID
  60. FOLIC ACID [Suspect]
     Active Substance: FOLIC ACID
  61. FOLIC ACID [Suspect]
     Active Substance: FOLIC ACID
  62. FOLIC ACID [Suspect]
     Active Substance: FOLIC ACID
  63. FOLIC ACID [Suspect]
     Active Substance: FOLIC ACID
  64. FOLIC ACID [Suspect]
     Active Substance: FOLIC ACID
  65. XELJANZ [Suspect]
     Active Substance: TOFACITINIB CITRATE
     Indication: Rheumatoid arthritis
  66. XELJANZ [Suspect]
     Active Substance: TOFACITINIB CITRATE
  67. XELJANZ [Suspect]
     Active Substance: TOFACITINIB CITRATE
  68. XELJANZ [Suspect]
     Active Substance: TOFACITINIB CITRATE
  69. XELJANZ [Suspect]
     Active Substance: TOFACITINIB CITRATE
  70. XELJANZ [Suspect]
     Active Substance: TOFACITINIB CITRATE
  71. XELJANZ [Suspect]
     Active Substance: TOFACITINIB CITRATE
  72. XELJANZ [Suspect]
     Active Substance: TOFACITINIB CITRATE
  73. XELJANZ [Suspect]
     Active Substance: TOFACITINIB CITRATE
  74. XELJANZ [Suspect]
     Active Substance: TOFACITINIB CITRATE
  75. XELJANZ [Suspect]
     Active Substance: TOFACITINIB CITRATE
  76. XELJANZ [Suspect]
     Active Substance: TOFACITINIB CITRATE
  77. XELJANZ [Suspect]
     Active Substance: TOFACITINIB CITRATE
  78. XELJANZ [Suspect]
     Active Substance: TOFACITINIB CITRATE
  79. XELJANZ [Suspect]
     Active Substance: TOFACITINIB CITRATE
  80. XELJANZ [Suspect]
     Active Substance: TOFACITINIB CITRATE
  81. METHOTREXATE SODIUM [Suspect]
     Active Substance: METHOTREXATE SODIUM
     Indication: Rheumatoid arthritis
  82. METHOTREXATE SODIUM [Suspect]
     Active Substance: METHOTREXATE SODIUM
  83. METHOTREXATE SODIUM [Suspect]
     Active Substance: METHOTREXATE SODIUM
     Dosage: 15 MG, WEEKLY
  84. METHOTREXATE SODIUM [Suspect]
     Active Substance: METHOTREXATE SODIUM
     Dosage: 25 MG, WEEKLY
  85. METHOTREXATE SODIUM [Suspect]
     Active Substance: METHOTREXATE SODIUM
  86. METHOTREXATE SODIUM [Suspect]
     Active Substance: METHOTREXATE SODIUM
     Dosage: 25 MG, WEEKLY
  87. METHOTREXATE SODIUM [Suspect]
     Active Substance: METHOTREXATE SODIUM
  88. METHOTREXATE SODIUM [Suspect]
     Active Substance: METHOTREXATE SODIUM
     Dosage: 25 MG, WEEKLY
  89. METHOTREXATE SODIUM [Suspect]
     Active Substance: METHOTREXATE SODIUM
     Dosage: 20 MG, WEEKLY
  90. METHOTREXATE SODIUM [Suspect]
     Active Substance: METHOTREXATE SODIUM
     Dosage: 15 MG, WEEKLY
  91. METHOTREXATE SODIUM [Suspect]
     Active Substance: METHOTREXATE SODIUM
  92. METHOTREXATE SODIUM [Suspect]
     Active Substance: METHOTREXATE SODIUM
  93. METHOTREXATE SODIUM [Suspect]
     Active Substance: METHOTREXATE SODIUM
     Dosage: 25 MG, WEEKLY
  94. METHOTREXATE SODIUM [Suspect]
     Active Substance: METHOTREXATE SODIUM
  95. METHOTREXATE SODIUM [Suspect]
     Active Substance: METHOTREXATE SODIUM
  96. METHOTREXATE SODIUM [Suspect]
     Active Substance: METHOTREXATE SODIUM
  97. METHOTREXATE SODIUM [Suspect]
     Active Substance: METHOTREXATE SODIUM
  98. METHOTREXATE SODIUM [Suspect]
     Active Substance: METHOTREXATE SODIUM
  99. METHOTREXATE SODIUM [Suspect]
     Active Substance: METHOTREXATE SODIUM
  100. METHOTREXATE SODIUM [Suspect]
     Active Substance: METHOTREXATE SODIUM
  101. METHOTREXATE SODIUM [Suspect]
     Active Substance: METHOTREXATE SODIUM
  102. METHOTREXATE SODIUM [Suspect]
     Active Substance: METHOTREXATE SODIUM
  103. METHOTREXATE SODIUM [Suspect]
     Active Substance: METHOTREXATE SODIUM
     Dosage: 15 MG, WEEKLY
  104. METHOTREXATE SODIUM [Suspect]
     Active Substance: METHOTREXATE SODIUM
  105. METHYLPREDNISOLONE [Suspect]
     Active Substance: METHYLPREDNISOLONE
  106. METHYLPREDNISOLONE [Suspect]
     Active Substance: METHYLPREDNISOLONE
  107. MINOCIN [Suspect]
     Active Substance: MINOCYCLINE HYDROCHLORIDE
     Indication: Rheumatoid arthritis
  108. PANTOPRAZOLE [Suspect]
     Active Substance: PANTOPRAZOLE
  109. RITUXIMAB [Suspect]
     Active Substance: RITUXIMAB
     Indication: Rheumatoid arthritis
     Route: 065
  110. RITUXIMAB [Suspect]
     Active Substance: RITUXIMAB
     Route: 065
  111. RITUXIMAB [Suspect]
     Active Substance: RITUXIMAB
     Route: 042
  112. RITUXIMAB [Suspect]
     Active Substance: RITUXIMAB
     Route: 042
  113. RITUXIMAB [Suspect]
     Active Substance: RITUXIMAB
     Route: 042
  114. RITUXIMAB [Suspect]
     Active Substance: RITUXIMAB
     Route: 042
  115. RITUXIMAB [Suspect]
     Active Substance: RITUXIMAB
     Route: 042
  116. RITUXIMAB [Suspect]
     Active Substance: RITUXIMAB
     Route: 041
  117. RITUXIMAB [Suspect]
     Active Substance: RITUXIMAB
     Route: 058
  118. RITUXIMAB [Suspect]
     Active Substance: RITUXIMAB
     Route: 065
  119. RITUXIMAB [Suspect]
     Active Substance: RITUXIMAB
     Route: 016
  120. RITUXIMAB [Suspect]
     Active Substance: RITUXIMAB
     Route: 043
  121. RITUXIMAB [Suspect]
     Active Substance: RITUXIMAB
     Route: 058
  122. RITUXIMAB [Suspect]
     Active Substance: RITUXIMAB
     Route: 058
  123. RITUXIMAB [Suspect]
     Active Substance: RITUXIMAB
     Route: 065
  124. RITUXIMAB [Suspect]
     Active Substance: RITUXIMAB
     Route: 016
  125. RITUXIMAB [Suspect]
     Active Substance: RITUXIMAB
     Route: 043
  126. RITUXIMAB [Suspect]
     Active Substance: RITUXIMAB
     Route: 065
  127. RITUXIMAB [Suspect]
     Active Substance: RITUXIMAB
     Route: 040
  128. RITUXIMAB [Suspect]
     Active Substance: RITUXIMAB
     Route: 065
  129. RITUXIMAB [Suspect]
     Active Substance: RITUXIMAB
     Route: 058
  130. RITUXIMAB [Suspect]
     Active Substance: RITUXIMAB
     Route: 058
  131. RITUXIMAB [Suspect]
     Active Substance: RITUXIMAB
     Route: 040
  132. RITUXIMAB [Suspect]
     Active Substance: RITUXIMAB
     Route: 042
  133. RITUXIMAB [Suspect]
     Active Substance: RITUXIMAB
     Route: 043
  134. RITUXIMAB [Suspect]
     Active Substance: RITUXIMAB
     Route: 016
  135. RITUXIMAB [Suspect]
     Active Substance: RITUXIMAB
     Route: 065
  136. RITUXIMAB [Suspect]
     Active Substance: RITUXIMAB
     Route: 065
  137. RITUXIMAB [Suspect]
     Active Substance: RITUXIMAB
     Route: 065
  138. RITUXIMAB [Suspect]
     Active Substance: RITUXIMAB
     Route: 040
  139. RITUXIMAB [Suspect]
     Active Substance: RITUXIMAB
     Route: 040
  140. RITUXIMAB [Suspect]
     Active Substance: RITUXIMAB
     Route: 042
  141. RITUXIMAB [Suspect]
     Active Substance: RITUXIMAB
     Route: 042
  142. RITUXIMAB [Suspect]
     Active Substance: RITUXIMAB
  143. RITUXIMAB [Suspect]
     Active Substance: RITUXIMAB
     Route: 042
  144. RITUXIMAB [Suspect]
     Active Substance: RITUXIMAB
     Route: 065
  145. SULFASALAZINE [Suspect]
     Active Substance: SULFASALAZINE
     Indication: Rheumatoid arthritis
  146. SULFASALAZINE [Suspect]
     Active Substance: SULFASALAZINE
  147. SULFASALAZINE [Suspect]
     Active Substance: SULFASALAZINE
  148. SULFASALAZINE [Suspect]
     Active Substance: SULFASALAZINE
  149. SULFASALAZINE [Suspect]
     Active Substance: SULFASALAZINE
  150. SULFASALAZINE [Suspect]
     Active Substance: SULFASALAZINE
  151. SULFASALAZINE [Suspect]
     Active Substance: SULFASALAZINE
  152. SULFASALAZINE [Suspect]
     Active Substance: SULFASALAZINE
  153. SULFASALAZINE [Suspect]
     Active Substance: SULFASALAZINE
  154. SULFASALAZINE [Suspect]
     Active Substance: SULFASALAZINE
  155. SULFASALAZINE [Suspect]
     Active Substance: SULFASALAZINE
  156. SULFASALAZINE [Suspect]
     Active Substance: SULFASALAZINE
  157. SULFASALAZINE [Suspect]
     Active Substance: SULFASALAZINE
  158. SULFASALAZINE [Suspect]
     Active Substance: SULFASALAZINE
  159. SULFASALAZINE [Suspect]
     Active Substance: SULFASALAZINE
  160. SULFASALAZINE [Suspect]
     Active Substance: SULFASALAZINE
  161. SULFASALAZINE [Suspect]
     Active Substance: SULFASALAZINE
  162. SULFASALAZINE [Suspect]
     Active Substance: SULFASALAZINE
  163. SULFASALAZINE [Suspect]
     Active Substance: SULFASALAZINE
  164. SULFASALAZINE [Suspect]
     Active Substance: SULFASALAZINE
  165. SULFASALAZINE [Suspect]
     Active Substance: SULFASALAZINE
  166. SULFASALAZINE [Suspect]
     Active Substance: SULFASALAZINE
  167. SULFASALAZINE [Suspect]
     Active Substance: SULFASALAZINE
  168. SULFASALAZINE [Suspect]
     Active Substance: SULFASALAZINE
  169. SULFASALAZINE [Suspect]
     Active Substance: SULFASALAZINE
  170. SULFASALAZINE [Suspect]
     Active Substance: SULFASALAZINE
  171. SULFASALAZINE [Suspect]
     Active Substance: SULFASALAZINE
  172. SULFASALAZINE [Suspect]
     Active Substance: SULFASALAZINE
  173. SULFASALAZINE [Suspect]
     Active Substance: SULFASALAZINE
  174. LEUCOVORIN CALCIUM [Suspect]
     Active Substance: LEUCOVORIN CALCIUM
     Indication: Rheumatoid arthritis
  175. LEUCOVORIN CALCIUM [Suspect]
     Active Substance: LEUCOVORIN CALCIUM
  176. LEUCOVORIN CALCIUM [Suspect]
     Active Substance: LEUCOVORIN CALCIUM
  177. LEUCOVORIN CALCIUM [Suspect]
     Active Substance: LEUCOVORIN CALCIUM
  178. LEUCOVORIN CALCIUM [Suspect]
     Active Substance: LEUCOVORIN CALCIUM
  179. LEUCOVORIN CALCIUM [Suspect]
     Active Substance: LEUCOVORIN CALCIUM
  180. LEUCOVORIN CALCIUM [Suspect]
     Active Substance: LEUCOVORIN CALCIUM
  181. LEUCOVORIN CALCIUM [Suspect]
     Active Substance: LEUCOVORIN CALCIUM
  182. LEUCOVORIN CALCIUM [Suspect]
     Active Substance: LEUCOVORIN CALCIUM
  183. LEUCOVORIN CALCIUM [Suspect]
     Active Substance: LEUCOVORIN CALCIUM
  184. LEUCOVORIN CALCIUM [Suspect]
     Active Substance: LEUCOVORIN CALCIUM
  185. LEUCOVORIN CALCIUM [Suspect]
     Active Substance: LEUCOVORIN CALCIUM
  186. LEUCOVORIN CALCIUM [Suspect]
     Active Substance: LEUCOVORIN CALCIUM
  187. LEUCOVORIN CALCIUM [Suspect]
     Active Substance: LEUCOVORIN CALCIUM
  188. ACETAMINOPHEN [Suspect]
     Active Substance: ACETAMINOPHEN
     Indication: Rheumatoid arthritis
     Route: 065
  189. ACETAMINOPHEN [Suspect]
     Active Substance: ACETAMINOPHEN
     Route: 065
  190. ACETAMINOPHEN [Suspect]
     Active Substance: ACETAMINOPHEN
     Route: 065
  191. ACETAMINOPHEN [Suspect]
     Active Substance: ACETAMINOPHEN
  192. ACETAMINOPHEN [Suspect]
     Active Substance: ACETAMINOPHEN
  193. ACETAMINOPHEN AND CODEINE [Suspect]
     Active Substance: ACETAMINOPHEN\CODEINE PHOSPHATE
     Indication: Rheumatoid arthritis
  194. ACETAMINOPHEN AND CODEINE [Suspect]
     Active Substance: ACETAMINOPHEN\CODEINE PHOSPHATE
     Route: 065
  195. ACETAMINOPHEN AND CODEINE [Suspect]
     Active Substance: ACETAMINOPHEN\CODEINE PHOSPHATE
     Route: 065
  196. ACTEMRA [Suspect]
     Active Substance: TOCILIZUMAB
     Indication: Abdominal discomfort
  197. ACTEMRA [Suspect]
     Active Substance: TOCILIZUMAB
     Indication: Rheumatoid arthritis
     Route: 058
  198. ACTEMRA [Suspect]
     Active Substance: TOCILIZUMAB
     Route: 065
  199. ACTEMRA [Suspect]
     Active Substance: TOCILIZUMAB
     Route: 065
  200. ACTEMRA [Suspect]
     Active Substance: TOCILIZUMAB
     Route: 058
  201. ACTEMRA [Suspect]
     Active Substance: TOCILIZUMAB
     Route: 058
  202. ACTEMRA [Suspect]
     Active Substance: TOCILIZUMAB
     Route: 065
  203. ACTEMRA [Suspect]
     Active Substance: TOCILIZUMAB
     Route: 061
  204. ACTEMRA [Suspect]
     Active Substance: TOCILIZUMAB
     Route: 065
  205. ACTEMRA [Suspect]
     Active Substance: TOCILIZUMAB
     Route: 065
  206. ACTEMRA [Suspect]
     Active Substance: TOCILIZUMAB
     Dosage: 25 MG, WEEKLY
     Route: 058
  207. ACTEMRA [Suspect]
     Active Substance: TOCILIZUMAB
     Route: 058
  208. ACTEMRA [Suspect]
     Active Substance: TOCILIZUMAB
     Route: 042
  209. ACTEMRA [Suspect]
     Active Substance: TOCILIZUMAB
     Route: 065
  210. ACTEMRA [Suspect]
     Active Substance: TOCILIZUMAB
     Route: 058
  211. ACTEMRA [Suspect]
     Active Substance: TOCILIZUMAB
     Dosage: 25 MG, WEEKLY
     Route: 065
  212. ACTEMRA [Suspect]
     Active Substance: TOCILIZUMAB
     Route: 058
  213. ACTEMRA [Suspect]
     Active Substance: TOCILIZUMAB
     Route: 058
  214. ACTEMRA [Suspect]
     Active Substance: TOCILIZUMAB
     Route: 058
  215. ACTEMRA [Suspect]
     Active Substance: TOCILIZUMAB
     Route: 058
  216. ACTEMRA [Suspect]
     Active Substance: TOCILIZUMAB
     Route: 058
  217. ACTEMRA [Suspect]
     Active Substance: TOCILIZUMAB
     Route: 058
  218. ACTEMRA [Suspect]
     Active Substance: TOCILIZUMAB
     Route: 058
  219. ACTEMRA [Suspect]
     Active Substance: TOCILIZUMAB
     Route: 058
  220. ACTEMRA [Suspect]
     Active Substance: TOCILIZUMAB
     Route: 065
  221. ACTEMRA [Suspect]
     Active Substance: TOCILIZUMAB
     Route: 016
  222. ACTEMRA [Suspect]
     Active Substance: TOCILIZUMAB
     Route: 065
  223. ACTEMRA [Suspect]
     Active Substance: TOCILIZUMAB
     Route: 040
  224. ACTEMRA [Suspect]
     Active Substance: TOCILIZUMAB
     Route: 040
  225. ACTEMRA [Suspect]
     Active Substance: TOCILIZUMAB
     Route: 016
  226. ACTEMRA [Suspect]
     Active Substance: TOCILIZUMAB
     Route: 040
  227. ACTEMRA [Suspect]
     Active Substance: TOCILIZUMAB
     Route: 065
  228. ACTEMRA [Suspect]
     Active Substance: TOCILIZUMAB
     Route: 040
  229. ACTEMRA [Suspect]
     Active Substance: TOCILIZUMAB
     Route: 065
  230. ACTEMRA [Suspect]
     Active Substance: TOCILIZUMAB
     Route: 040
  231. ACTEMRA [Suspect]
     Active Substance: TOCILIZUMAB
     Route: 040
  232. ACTEMRA [Suspect]
     Active Substance: TOCILIZUMAB
     Route: 048
  233. ACTEMRA [Suspect]
     Active Substance: TOCILIZUMAB
     Route: 065
  234. ACTEMRA [Suspect]
     Active Substance: TOCILIZUMAB
     Dosage: 162 MG, WEEKLY
  235. ACTEMRA [Suspect]
     Active Substance: TOCILIZUMAB
     Route: 042
  236. ACTEMRA [Suspect]
     Active Substance: TOCILIZUMAB
     Route: 042
  237. ACTEMRA [Suspect]
     Active Substance: TOCILIZUMAB
     Route: 061
  238. ACTEMRA [Suspect]
     Active Substance: TOCILIZUMAB
  239. ACTEMRA [Suspect]
     Active Substance: TOCILIZUMAB
  240. ACTEMRA [Suspect]
     Active Substance: TOCILIZUMAB
  241. ACTEMRA [Suspect]
     Active Substance: TOCILIZUMAB
  242. ACTEMRA [Suspect]
     Active Substance: TOCILIZUMAB
  243. ACTEMRA [Suspect]
     Active Substance: TOCILIZUMAB
  244. ACTEMRA [Suspect]
     Active Substance: TOCILIZUMAB
  245. ACTEMRA [Suspect]
     Active Substance: TOCILIZUMAB
  246. AIMOVIG [Suspect]
     Active Substance: ERENUMAB-AOOE
     Indication: Rheumatoid arthritis
     Route: 048
  247. AIMOVIG [Suspect]
     Active Substance: ERENUMAB-AOOE
     Indication: Migraine
     Route: 048
  248. AIMOVIG [Suspect]
     Active Substance: ERENUMAB-AOOE
     Route: 065
  249. AIMOVIG [Suspect]
     Active Substance: ERENUMAB-AOOE
  250. AIMOVIG [Suspect]
     Active Substance: ERENUMAB-AOOE
  251. AIMOVIG [Suspect]
     Active Substance: ERENUMAB-AOOE
  252. ALENDRONATE SODIUM [Suspect]
     Active Substance: ALENDRONATE SODIUM
     Indication: Rheumatoid arthritis
     Route: 048
  253. ALENDRONATE SODIUM [Suspect]
     Active Substance: ALENDRONATE SODIUM
  254. ALENDRONATE SODIUM [Suspect]
     Active Substance: ALENDRONATE SODIUM
     Route: 058
  255. ALENDRONATE SODIUM [Suspect]
     Active Substance: ALENDRONATE SODIUM
     Route: 016
  256. ALENDRONATE SODIUM [Suspect]
     Active Substance: ALENDRONATE SODIUM
     Route: 065
  257. ALENDRONATE SODIUM [Suspect]
     Active Substance: ALENDRONATE SODIUM
     Route: 016
  258. ALENDRONATE SODIUM [Suspect]
     Active Substance: ALENDRONATE SODIUM
     Route: 005
  259. ALENDRONATE SODIUM [Suspect]
     Active Substance: ALENDRONATE SODIUM
     Route: 016
  260. ALENDRONATE SODIUM [Suspect]
     Active Substance: ALENDRONATE SODIUM
  261. ALENDRONATE SODIUM [Suspect]
     Active Substance: ALENDRONATE SODIUM
  262. ALENDRONATE SODIUM [Suspect]
     Active Substance: ALENDRONATE SODIUM
  263. ALENDRONATE SODIUM [Suspect]
     Active Substance: ALENDRONATE SODIUM
  264. ALENDRONATE SODIUM [Suspect]
     Active Substance: ALENDRONATE SODIUM
  265. ALENDRONATE SODIUM [Suspect]
     Active Substance: ALENDRONATE SODIUM
  266. ALENDRONATE SODIUM\CHOLECALCIFEROL [Suspect]
     Active Substance: ALENDRONATE SODIUM\CHOLECALCIFEROL
  267. ALENDRONATE SODIUM\CHOLECALCIFEROL [Suspect]
     Active Substance: ALENDRONATE SODIUM\CHOLECALCIFEROL
  268. ALENDRONIC ACID [Suspect]
     Active Substance: ALENDRONIC ACID
     Indication: Rheumatoid arthritis
     Route: 065
  269. ALENDRONIC ACID [Suspect]
     Active Substance: ALENDRONIC ACID
     Route: 048
  270. ALENDRONIC ACID [Suspect]
     Active Substance: ALENDRONIC ACID
     Route: 048
  271. ALENDRONIC ACID [Suspect]
     Active Substance: ALENDRONIC ACID
     Route: 016
  272. ALENDRONIC ACID [Suspect]
     Active Substance: ALENDRONIC ACID
     Route: 048
  273. ALENDRONIC ACID [Suspect]
     Active Substance: ALENDRONIC ACID
     Route: 065
  274. ALENDRONIC ACID [Suspect]
     Active Substance: ALENDRONIC ACID
     Route: 016
  275. ALENDRONIC ACID [Suspect]
     Active Substance: ALENDRONIC ACID
  276. ALENDRONIC ACID [Suspect]
     Active Substance: ALENDRONIC ACID
  277. ALENDRONIC ACID [Suspect]
     Active Substance: ALENDRONIC ACID
  278. ALENDRONIC ACID [Suspect]
     Active Substance: ALENDRONIC ACID
  279. ALENDRONIC ACID [Suspect]
     Active Substance: ALENDRONIC ACID
  280. ALENDRONIC ACID [Suspect]
     Active Substance: ALENDRONIC ACID
  281. ALENDRONIC ACID [Suspect]
     Active Substance: ALENDRONIC ACID
  282. ALENDRONATE SODIUM\CHOLECALCIFEROL [Suspect]
     Active Substance: ALENDRONATE SODIUM\CHOLECALCIFEROL
     Indication: Rheumatoid arthritis
     Route: 065
  283. ALENDRONATE SODIUM\CHOLECALCIFEROL [Suspect]
     Active Substance: ALENDRONATE SODIUM\CHOLECALCIFEROL
  284. PREDNISONE [Suspect]
     Active Substance: PREDNISONE
     Indication: Rheumatoid arthritis
     Route: 048
  285. PREDNISONE [Suspect]
     Active Substance: PREDNISONE
     Route: 048
  286. PREDNISONE [Suspect]
     Active Substance: PREDNISONE
     Route: 048
  287. PREDNISONE [Suspect]
     Active Substance: PREDNISONE
     Route: 048
  288. PREDNISONE [Suspect]
     Active Substance: PREDNISONE
     Route: 048
  289. PREDNISONE [Suspect]
     Active Substance: PREDNISONE
     Route: 065
  290. PREDNISONE [Suspect]
     Active Substance: PREDNISONE
     Route: 048
  291. PREDNISONE [Suspect]
     Active Substance: PREDNISONE
     Route: 048
  292. PREDNISONE [Suspect]
     Active Substance: PREDNISONE
     Route: 048
  293. PREDNISONE [Suspect]
     Active Substance: PREDNISONE
     Route: 058
  294. PREDNISONE [Suspect]
     Active Substance: PREDNISONE
     Route: 048
  295. PREDNISONE [Suspect]
     Active Substance: PREDNISONE
     Route: 048
  296. PREDNISONE [Suspect]
     Active Substance: PREDNISONE
     Route: 048
  297. PREDNISONE [Suspect]
     Active Substance: PREDNISONE
     Route: 048
  298. PREDNISONE [Suspect]
     Active Substance: PREDNISONE
     Route: 048
  299. PREDNISONE [Suspect]
     Active Substance: PREDNISONE
  300. PREDNISONE [Suspect]
     Active Substance: PREDNISONE
  301. PREDNISONE [Suspect]
     Active Substance: PREDNISONE
  302. PREDNISONE [Suspect]
     Active Substance: PREDNISONE
  303. TRAMADOL HYDROCHLORIDE [Suspect]
     Active Substance: TRAMADOL HYDROCHLORIDE
     Route: 065
  304. TRAMADOL HYDROCHLORIDE [Suspect]
     Active Substance: TRAMADOL HYDROCHLORIDE
  305. ARAVA [Suspect]
     Active Substance: LEFLUNOMIDE
     Indication: Rheumatoid arthritis
     Route: 065
  306. ARAVA [Suspect]
     Active Substance: LEFLUNOMIDE
     Route: 048
  307. ARAVA [Suspect]
     Active Substance: LEFLUNOMIDE
     Route: 048
  308. ARAVA [Suspect]
     Active Substance: LEFLUNOMIDE
     Route: 065
  309. ARAVA [Suspect]
     Active Substance: LEFLUNOMIDE
     Route: 048
  310. ARAVA [Suspect]
     Active Substance: LEFLUNOMIDE
     Route: 065
  311. ARAVA [Suspect]
     Active Substance: LEFLUNOMIDE
     Route: 065
  312. ARAVA [Suspect]
     Active Substance: LEFLUNOMIDE
     Route: 048
  313. ARAVA [Suspect]
     Active Substance: LEFLUNOMIDE
     Route: 065
  314. ARAVA [Suspect]
     Active Substance: LEFLUNOMIDE
     Route: 048
  315. ARAVA [Suspect]
     Active Substance: LEFLUNOMIDE
     Route: 048
  316. ARAVA [Suspect]
     Active Substance: LEFLUNOMIDE
  317. ARAVA [Suspect]
     Active Substance: LEFLUNOMIDE
  318. ARAVA [Suspect]
     Active Substance: LEFLUNOMIDE
  319. ARAVA [Suspect]
     Active Substance: LEFLUNOMIDE
  320. ASCORBIC ACID\CALCIUM [Suspect]
     Active Substance: ASCORBIC ACID\CALCIUM
     Route: 065
  321. ASCORBIC ACID\CALCIUM [Suspect]
     Active Substance: ASCORBIC ACID\CALCIUM
  322. ATOMOXETINE HYDROCHLORIDE [Suspect]
     Active Substance: ATOMOXETINE HYDROCHLORIDE
     Indication: Migraine
     Route: 065
  323. ATOMOXETINE HYDROCHLORIDE [Suspect]
     Active Substance: ATOMOXETINE HYDROCHLORIDE
  324. BERINERT [Suspect]
     Active Substance: HUMAN C1-ESTERASE INHIBITOR
  325. BERINERT [Suspect]
     Active Substance: HUMAN C1-ESTERASE INHIBITOR
  326. BUTRANS [Suspect]
     Active Substance: BUPRENORPHINE
     Route: 065
  327. BUTRANS [Suspect]
     Active Substance: BUPRENORPHINE
  328. CALTRATE [Suspect]
     Active Substance: CALCIUM CARBONATE
  329. CALTRATE [Suspect]
     Active Substance: CALCIUM CARBONATE
  330. CALCIUM GLUBIONATE [Suspect]
     Active Substance: CALCIUM GLUBIONATE
     Route: 016
  331. CALCIUM GLUBIONATE [Suspect]
     Active Substance: CALCIUM GLUBIONATE
  332. CANDESARTAN [Suspect]
     Active Substance: CANDESARTAN
     Indication: Rheumatoid arthritis
     Route: 048
  333. CANDESARTAN [Suspect]
     Active Substance: CANDESARTAN
     Indication: Migraine
  334. CERTOLIZUMAB PEGOL [Suspect]
     Active Substance: CERTOLIZUMAB PEGOL
     Indication: Rheumatoid arthritis
  335. CERTOLIZUMAB PEGOL [Suspect]
     Active Substance: CERTOLIZUMAB PEGOL
     Route: 065
  336. CERTOLIZUMAB PEGOL [Suspect]
     Active Substance: CERTOLIZUMAB PEGOL
     Route: 065
  337. CERTOLIZUMAB PEGOL [Suspect]
     Active Substance: CERTOLIZUMAB PEGOL
     Route: 016
  338. CERTOLIZUMAB PEGOL [Suspect]
     Active Substance: CERTOLIZUMAB PEGOL
     Route: 058
  339. CERTOLIZUMAB PEGOL [Suspect]
     Active Substance: CERTOLIZUMAB PEGOL
     Route: 058
  340. CERTOLIZUMAB PEGOL [Suspect]
     Active Substance: CERTOLIZUMAB PEGOL
     Route: 058
  341. CERTOLIZUMAB PEGOL [Suspect]
     Active Substance: CERTOLIZUMAB PEGOL
     Route: 065
  342. CERTOLIZUMAB PEGOL [Suspect]
     Active Substance: CERTOLIZUMAB PEGOL
  343. CERTOLIZUMAB PEGOL [Suspect]
     Active Substance: CERTOLIZUMAB PEGOL
  344. CERTOLIZUMAB PEGOL [Suspect]
     Active Substance: CERTOLIZUMAB PEGOL
  345. CERTOLIZUMAB PEGOL [Suspect]
     Active Substance: CERTOLIZUMAB PEGOL
  346. CERTOLIZUMAB PEGOL [Suspect]
     Active Substance: CERTOLIZUMAB PEGOL
  347. CETIRIZINE HYDROCHLORIDE [Suspect]
     Active Substance: CETIRIZINE HYDROCHLORIDE
     Indication: Rheumatoid arthritis
  348. CETIRIZINE HYDROCHLORIDE [Suspect]
     Active Substance: CETIRIZINE HYDROCHLORIDE
     Route: 048
  349. CETIRIZINE HYDROCHLORIDE [Suspect]
     Active Substance: CETIRIZINE HYDROCHLORIDE
     Route: 065
  350. CETIRIZINE HYDROCHLORIDE [Suspect]
     Active Substance: CETIRIZINE HYDROCHLORIDE
     Route: 065
  351. CETIRIZINE HYDROCHLORIDE [Suspect]
     Active Substance: CETIRIZINE HYDROCHLORIDE
     Route: 065
  352. CETIRIZINE HYDROCHLORIDE [Suspect]
     Active Substance: CETIRIZINE HYDROCHLORIDE
     Route: 065
  353. CETIRIZINE HYDROCHLORIDE [Suspect]
     Active Substance: CETIRIZINE HYDROCHLORIDE
     Route: 065
  354. CETIRIZINE HYDROCHLORIDE [Suspect]
     Active Substance: CETIRIZINE HYDROCHLORIDE
     Route: 048
  355. CETIRIZINE HYDROCHLORIDE [Suspect]
     Active Substance: CETIRIZINE HYDROCHLORIDE
     Route: 048
  356. CETIRIZINE HYDROCHLORIDE [Suspect]
     Active Substance: CETIRIZINE HYDROCHLORIDE
     Route: 048
  357. CETIRIZINE HYDROCHLORIDE [Suspect]
     Active Substance: CETIRIZINE HYDROCHLORIDE
     Route: 065
  358. CETIRIZINE HYDROCHLORIDE [Suspect]
     Active Substance: CETIRIZINE HYDROCHLORIDE
     Route: 065
  359. CETIRIZINE HYDROCHLORIDE [Suspect]
     Active Substance: CETIRIZINE HYDROCHLORIDE
     Route: 048
  360. CETIRIZINE HYDROCHLORIDE [Suspect]
     Active Substance: CETIRIZINE HYDROCHLORIDE
     Route: 065
  361. CETIRIZINE HYDROCHLORIDE [Suspect]
     Active Substance: CETIRIZINE HYDROCHLORIDE
     Route: 048
  362. CETIRIZINE HYDROCHLORIDE [Suspect]
     Active Substance: CETIRIZINE HYDROCHLORIDE
     Route: 065
  363. CETIRIZINE HYDROCHLORIDE [Suspect]
     Active Substance: CETIRIZINE HYDROCHLORIDE
     Route: 065
  364. CETIRIZINE HYDROCHLORIDE [Suspect]
     Active Substance: CETIRIZINE HYDROCHLORIDE
     Route: 065
  365. CETIRIZINE HYDROCHLORIDE [Suspect]
     Active Substance: CETIRIZINE HYDROCHLORIDE
     Route: 065
  366. CETIRIZINE HYDROCHLORIDE [Suspect]
     Active Substance: CETIRIZINE HYDROCHLORIDE
     Route: 065
  367. CETIRIZINE HYDROCHLORIDE [Suspect]
     Active Substance: CETIRIZINE HYDROCHLORIDE
     Route: 065
  368. CETIRIZINE HYDROCHLORIDE [Suspect]
     Active Substance: CETIRIZINE HYDROCHLORIDE
     Route: 065
  369. CETIRIZINE HYDROCHLORIDE [Suspect]
     Active Substance: CETIRIZINE HYDROCHLORIDE
     Route: 065
  370. CETIRIZINE HYDROCHLORIDE [Suspect]
     Active Substance: CETIRIZINE HYDROCHLORIDE
     Route: 016
  371. CETIRIZINE HYDROCHLORIDE [Suspect]
     Active Substance: CETIRIZINE HYDROCHLORIDE
     Route: 065
  372. CETIRIZINE HYDROCHLORIDE [Suspect]
     Active Substance: CETIRIZINE HYDROCHLORIDE
     Route: 065
  373. CETIRIZINE HYDROCHLORIDE [Suspect]
     Active Substance: CETIRIZINE HYDROCHLORIDE
     Route: 065
  374. CETIRIZINE HYDROCHLORIDE [Suspect]
     Active Substance: CETIRIZINE HYDROCHLORIDE
     Route: 065
  375. CETIRIZINE HYDROCHLORIDE [Suspect]
     Active Substance: CETIRIZINE HYDROCHLORIDE
     Route: 065
  376. CETIRIZINE HYDROCHLORIDE [Suspect]
     Active Substance: CETIRIZINE HYDROCHLORIDE
     Route: 065
  377. CETIRIZINE HYDROCHLORIDE [Suspect]
     Active Substance: CETIRIZINE HYDROCHLORIDE
  378. CETIRIZINE HYDROCHLORIDE [Suspect]
     Active Substance: CETIRIZINE HYDROCHLORIDE
  379. CETIRIZINE HYDROCHLORIDE [Suspect]
     Active Substance: CETIRIZINE HYDROCHLORIDE
  380. CETIRIZINE HYDROCHLORIDE [Suspect]
     Active Substance: CETIRIZINE HYDROCHLORIDE
  381. CETIRIZINE HYDROCHLORIDE [Suspect]
     Active Substance: CETIRIZINE HYDROCHLORIDE
  382. CETIRIZINE HYDROCHLORIDE [Suspect]
     Active Substance: CETIRIZINE HYDROCHLORIDE
  383. CETIRIZINE HYDROCHLORIDE [Suspect]
     Active Substance: CETIRIZINE HYDROCHLORIDE
  384. CHOLOGRAFIN MEGLUMINE [Suspect]
     Active Substance: IODIPAMIDE MEGLUMINE
  385. CHOLOGRAFIN MEGLUMINE [Suspect]
     Active Substance: IODIPAMIDE MEGLUMINE
  386. CIMZIA [Suspect]
     Active Substance: CERTOLIZUMAB PEGOL
     Indication: Rheumatoid arthritis
     Route: 058
  387. CIMZIA [Suspect]
     Active Substance: CERTOLIZUMAB PEGOL
     Indication: Psoriasis
     Route: 058
  388. CIMZIA [Suspect]
     Active Substance: CERTOLIZUMAB PEGOL
     Route: 058
  389. CIMZIA [Suspect]
     Active Substance: CERTOLIZUMAB PEGOL
     Route: 058
  390. CIMZIA [Suspect]
     Active Substance: CERTOLIZUMAB PEGOL
     Route: 058
  391. CIMZIA [Suspect]
     Active Substance: CERTOLIZUMAB PEGOL
     Route: 065
  392. CIMZIA [Suspect]
     Active Substance: CERTOLIZUMAB PEGOL
     Route: 058
  393. CIMZIA [Suspect]
     Active Substance: CERTOLIZUMAB PEGOL
     Route: 058
  394. CIMZIA [Suspect]
     Active Substance: CERTOLIZUMAB PEGOL
     Route: 058
  395. CIMZIA [Suspect]
     Active Substance: CERTOLIZUMAB PEGOL
     Route: 058
  396. CIMZIA [Suspect]
     Active Substance: CERTOLIZUMAB PEGOL
     Route: 058
  397. CIMZIA [Suspect]
     Active Substance: CERTOLIZUMAB PEGOL
  398. CIMZIA [Suspect]
     Active Substance: CERTOLIZUMAB PEGOL
  399. CIMZIA [Suspect]
     Active Substance: CERTOLIZUMAB PEGOL
  400. CIMZIA [Suspect]
     Active Substance: CERTOLIZUMAB PEGOL
  401. CIMZIA [Suspect]
     Active Substance: CERTOLIZUMAB PEGOL
  402. CORTISONE [Suspect]
     Active Substance: CORTISONE
     Indication: Rheumatoid arthritis
     Route: 058
  403. CORTISONE [Suspect]
     Active Substance: CORTISONE
     Route: 065
  404. CORTISONE [Suspect]
     Active Substance: CORTISONE
  405. CORTISONE [Suspect]
     Active Substance: CORTISONE
  406. CORTISONE ACETATE [Suspect]
     Active Substance: CORTISONE ACETATE
     Indication: Rheumatoid arthritis
  407. CORTISONE ACETATE [Suspect]
     Active Substance: CORTISONE ACETATE
     Route: 065
  408. CORTISONE ACETATE [Suspect]
     Active Substance: CORTISONE ACETATE
     Route: 061
  409. CORTISONE ACETATE [Suspect]
     Active Substance: CORTISONE ACETATE
     Route: 065
  410. CORTISONE ACETATE [Suspect]
     Active Substance: CORTISONE ACETATE
  411. COSENTYX [Suspect]
     Active Substance: SECUKINUMAB
     Indication: Rheumatoid arthritis
     Route: 065
  412. COSENTYX [Suspect]
     Active Substance: SECUKINUMAB
     Indication: Psoriatic arthropathy
     Route: 065
  413. COSENTYX [Suspect]
     Active Substance: SECUKINUMAB
     Route: 065
  414. COSENTYX [Suspect]
     Active Substance: SECUKINUMAB
  415. COSENTYX [Suspect]
     Active Substance: SECUKINUMAB
  416. COSENTYX [Suspect]
     Active Substance: SECUKINUMAB
  417. DESOXIMETASONE [Suspect]
     Active Substance: DESOXIMETASONE
     Indication: Rheumatoid arthritis
     Route: 048
  418. DESOXIMETASONE [Suspect]
     Active Substance: DESOXIMETASONE
     Route: 058
  419. DESOXIMETASONE [Suspect]
     Active Substance: DESOXIMETASONE
     Route: 048
  420. DESOXIMETASONE [Suspect]
     Active Substance: DESOXIMETASONE
     Route: 048
  421. DESOXIMETASONE [Suspect]
     Active Substance: DESOXIMETASONE
     Route: 065
  422. DESOXIMETASONE [Suspect]
     Active Substance: DESOXIMETASONE
     Route: 048
  423. DESOXIMETASONE [Suspect]
     Active Substance: DESOXIMETASONE
     Route: 058
  424. DESOXIMETASONE [Suspect]
     Active Substance: DESOXIMETASONE
     Route: 065
  425. DESOXIMETASONE [Suspect]
     Active Substance: DESOXIMETASONE
     Route: 065
  426. DESOXIMETASONE [Suspect]
     Active Substance: DESOXIMETASONE
     Route: 058
  427. DESOXIMETASONE [Suspect]
     Active Substance: DESOXIMETASONE
     Route: 048
  428. DESOXIMETASONE [Suspect]
     Active Substance: DESOXIMETASONE
  429. DESOXIMETASONE [Suspect]
     Active Substance: DESOXIMETASONE
  430. DESOXIMETASONE [Suspect]
     Active Substance: DESOXIMETASONE
  431. DESOXIMETASONE [Suspect]
     Active Substance: DESOXIMETASONE
  432. DESOXIMETASONE [Suspect]
     Active Substance: DESOXIMETASONE
  433. DESOXIMETASONE [Suspect]
     Active Substance: DESOXIMETASONE
  434. DESOXIMETASONE [Suspect]
     Active Substance: DESOXIMETASONE
  435. DESOXIMETASONE [Suspect]
     Active Substance: DESOXIMETASONE
  436. DICLOFENAC SODIUM [Suspect]
     Active Substance: DICLOFENAC SODIUM
     Route: 065
  437. DICLOFENAC SODIUM [Suspect]
     Active Substance: DICLOFENAC SODIUM
     Route: 058
  438. DICLOFENAC SODIUM [Suspect]
     Active Substance: DICLOFENAC SODIUM
     Route: 058
  439. DICLOFENAC SODIUM [Suspect]
     Active Substance: DICLOFENAC SODIUM
  440. ERELZI [Suspect]
     Active Substance: ETANERCEPT-SZZS
     Indication: Rheumatoid arthritis
     Route: 048
  441. ERELZI [Suspect]
     Active Substance: ETANERCEPT-SZZS
     Route: 058
  442. ERELZI [Suspect]
     Active Substance: ETANERCEPT-SZZS
     Dosage: 50 MG, WEEKLY
     Route: 058
  443. ERELZI [Suspect]
     Active Substance: ETANERCEPT-SZZS
     Route: 065
  444. ERELZI [Suspect]
     Active Substance: ETANERCEPT-SZZS
     Dosage: 50 MG, WEEKLY
     Route: 058
  445. ERELZI [Suspect]
     Active Substance: ETANERCEPT-SZZS
  446. ERELZI [Suspect]
     Active Substance: ETANERCEPT-SZZS
  447. ERELZI [Suspect]
     Active Substance: ETANERCEPT-SZZS
  448. IRON\VITAMINS [Suspect]
     Active Substance: IRON\VITAMINS
  449. IRON\VITAMINS [Suspect]
     Active Substance: IRON\VITAMINS
  450. HYDROCORTISONE [Suspect]
     Active Substance: HYDROCORTISONE
     Route: 065
  451. HYDROCORTISONE [Suspect]
     Active Substance: HYDROCORTISONE
  452. FLUMETHASONE PIVALATE [Suspect]
     Active Substance: FLUMETHASONE PIVALATE
     Route: 065
  453. FLUMETHASONE PIVALATE [Suspect]
     Active Substance: FLUMETHASONE PIVALATE
     Route: 065
  454. FLUMETHASONE PIVALATE [Suspect]
     Active Substance: FLUMETHASONE PIVALATE
     Route: 065
  455. FLUMETHASONE PIVALATE [Suspect]
     Active Substance: FLUMETHASONE PIVALATE
     Route: 048
  456. FLUMETHASONE PIVALATE [Suspect]
     Active Substance: FLUMETHASONE PIVALATE
     Route: 065
  457. FLUMETHASONE PIVALATE [Suspect]
     Active Substance: FLUMETHASONE PIVALATE
     Route: 065
  458. FLUMETHASONE PIVALATE [Suspect]
     Active Substance: FLUMETHASONE PIVALATE
     Route: 065
  459. FLUMETHASONE PIVALATE [Suspect]
     Active Substance: FLUMETHASONE PIVALATE
     Route: 065
  460. FLUMETHASONE PIVALATE [Suspect]
     Active Substance: FLUMETHASONE PIVALATE
     Route: 048
  461. FLUMETHASONE PIVALATE [Suspect]
     Active Substance: FLUMETHASONE PIVALATE
     Route: 048
  462. FLUMETHASONE PIVALATE [Suspect]
     Active Substance: FLUMETHASONE PIVALATE
     Route: 048
  463. FLUMETHASONE PIVALATE [Suspect]
     Active Substance: FLUMETHASONE PIVALATE
     Route: 048
  464. FLUMETHASONE PIVALATE [Suspect]
     Active Substance: FLUMETHASONE PIVALATE
  465. FLUMETHASONE PIVALATE [Suspect]
     Active Substance: FLUMETHASONE PIVALATE
  466. FLUMETHASONE PIVALATE [Suspect]
     Active Substance: FLUMETHASONE PIVALATE
  467. FLUMETHASONE PIVALATE [Suspect]
     Active Substance: FLUMETHASONE PIVALATE
  468. FLUMETHASONE PIVALATE [Suspect]
     Active Substance: FLUMETHASONE PIVALATE
  469. FLUTICASONE PROPIONATE [Suspect]
     Active Substance: FLUTICASONE PROPIONATE
  470. FLUTICASONE PROPIONATE [Suspect]
     Active Substance: FLUTICASONE PROPIONATE
  471. FOSAMAX [Suspect]
     Active Substance: ALENDRONATE SODIUM
     Indication: Rheumatoid arthritis
     Route: 058
  472. FOSAMAX [Suspect]
     Active Substance: ALENDRONATE SODIUM
     Route: 048
  473. FOSAMAX [Suspect]
     Active Substance: ALENDRONATE SODIUM
     Route: 065
  474. FOSAMAX [Suspect]
     Active Substance: ALENDRONATE SODIUM
     Route: 065
  475. FOSAMAX [Suspect]
     Active Substance: ALENDRONATE SODIUM
     Route: 016
  476. FOSAMAX [Suspect]
     Active Substance: ALENDRONATE SODIUM
  477. FOSAMAX [Suspect]
     Active Substance: ALENDRONATE SODIUM
  478. FOSAMAX [Suspect]
     Active Substance: ALENDRONATE SODIUM
  479. FOSAMAX [Suspect]
     Active Substance: ALENDRONATE SODIUM
  480. FOSAMAX [Suspect]
     Active Substance: ALENDRONATE SODIUM
  481. GOLD SODIUM THIOMALATE [Suspect]
     Active Substance: GOLD SODIUM THIOMALATE
     Route: 065
  482. GOLD SODIUM THIOMALATE [Suspect]
     Active Substance: GOLD SODIUM THIOMALATE
     Route: 030
  483. GOLD SODIUM THIOMALATE [Suspect]
     Active Substance: GOLD SODIUM THIOMALATE
     Route: 048
  484. GOLD SODIUM THIOMALATE [Suspect]
     Active Substance: GOLD SODIUM THIOMALATE
  485. GOLD SODIUM THIOMALATE [Suspect]
     Active Substance: GOLD SODIUM THIOMALATE
  486. GOLD SODIUM THIOMALATE [Suspect]
     Active Substance: GOLD SODIUM THIOMALATE
  487. HUMIRA [Suspect]
     Active Substance: ADALIMUMAB
     Indication: Rheumatoid arthritis
  488. HUMIRA [Suspect]
     Active Substance: ADALIMUMAB
     Route: 058
  489. HUMIRA [Suspect]
     Active Substance: ADALIMUMAB
     Route: 058
  490. HUMIRA [Suspect]
     Active Substance: ADALIMUMAB
     Route: 057
  491. HUMIRA [Suspect]
     Active Substance: ADALIMUMAB
     Route: 058
  492. HUMIRA [Suspect]
     Active Substance: ADALIMUMAB
     Route: 058
  493. HUMIRA [Suspect]
     Active Substance: ADALIMUMAB
     Route: 058
  494. HUMIRA [Suspect]
     Active Substance: ADALIMUMAB
     Route: 065
  495. HUMIRA [Suspect]
     Active Substance: ADALIMUMAB
  496. HUMIRA [Suspect]
     Active Substance: ADALIMUMAB
  497. HUMIRA [Suspect]
     Active Substance: ADALIMUMAB
  498. HYDROCORTISONE ACETATE [Suspect]
     Active Substance: HYDROCORTISONE ACETATE
     Indication: Rheumatoid arthritis
     Route: 065
  499. HYDROCORTISONE ACETATE [Suspect]
     Active Substance: HYDROCORTISONE ACETATE
     Route: 058
  500. HYDROCORTISONE ACETATE [Suspect]
     Active Substance: HYDROCORTISONE ACETATE
  501. HYDROCORTISONE ACETATE [Suspect]
     Active Substance: HYDROCORTISONE ACETATE
  502. HYDROCORTISONE BUTYRATE [Suspect]
     Active Substance: HYDROCORTISONE BUTYRATE
  503. HYDROCORTISONE BUTYRATE [Suspect]
     Active Substance: HYDROCORTISONE BUTYRATE
  504. HYDROCORTISONE\NEOMYCIN SULFATE [Suspect]
     Active Substance: HYDROCORTISONE\NEOMYCIN SULFATE
  505. HYDROCORTISONE\NEOMYCIN SULFATE [Suspect]
     Active Substance: HYDROCORTISONE\NEOMYCIN SULFATE
  506. HYDROXYCHLOROQUINE SULFATE [Suspect]
     Active Substance: HYDROXYCHLOROQUINE SULFATE
     Indication: Rheumatoid arthritis
     Route: 048
  507. HYDROXYCHLOROQUINE SULFATE [Suspect]
     Active Substance: HYDROXYCHLOROQUINE SULFATE
     Route: 065
  508. HYDROXYCHLOROQUINE SULFATE [Suspect]
     Active Substance: HYDROXYCHLOROQUINE SULFATE
     Route: 065
  509. HYDROXYCHLOROQUINE SULFATE [Suspect]
     Active Substance: HYDROXYCHLOROQUINE SULFATE
     Route: 065
  510. HYDROXYCHLOROQUINE SULFATE [Suspect]
     Active Substance: HYDROXYCHLOROQUINE SULFATE
     Route: 065
  511. HYDROXYCHLOROQUINE SULFATE [Suspect]
     Active Substance: HYDROXYCHLOROQUINE SULFATE
     Route: 065
  512. HYDROXYCHLOROQUINE SULFATE [Suspect]
     Active Substance: HYDROXYCHLOROQUINE SULFATE
     Route: 065
  513. HYDROXYCHLOROQUINE SULFATE [Suspect]
     Active Substance: HYDROXYCHLOROQUINE SULFATE
     Route: 048
  514. HYDROXYCHLOROQUINE SULFATE [Suspect]
     Active Substance: HYDROXYCHLOROQUINE SULFATE
     Route: 048
  515. HYDROXYCHLOROQUINE SULFATE [Suspect]
     Active Substance: HYDROXYCHLOROQUINE SULFATE
     Route: 065
  516. HYDROXYCHLOROQUINE SULFATE [Suspect]
     Active Substance: HYDROXYCHLOROQUINE SULFATE
  517. HYDROXYCHLOROQUINE SULFATE [Suspect]
     Active Substance: HYDROXYCHLOROQUINE SULFATE
  518. HYDROXYCHLOROQUINE SULFATE [Suspect]
     Active Substance: HYDROXYCHLOROQUINE SULFATE
  519. HYDROXYCHLOROQUINE SULFATE [Suspect]
     Active Substance: HYDROXYCHLOROQUINE SULFATE
  520. HYDROXYCHLOROQUINE [Suspect]
     Active Substance: HYDROXYCHLOROQUINE
     Indication: Rheumatoid arthritis
     Route: 065
  521. HYDROXYCHLOROQUINE [Suspect]
     Active Substance: HYDROXYCHLOROQUINE
     Route: 048
  522. HYDROXYCHLOROQUINE [Suspect]
     Active Substance: HYDROXYCHLOROQUINE
     Route: 065
  523. HYDROXYCHLOROQUINE [Suspect]
     Active Substance: HYDROXYCHLOROQUINE
     Route: 048
  524. HYDROXYCHLOROQUINE [Suspect]
     Active Substance: HYDROXYCHLOROQUINE
     Route: 048
  525. HYDROXYCHLOROQUINE [Suspect]
     Active Substance: HYDROXYCHLOROQUINE
     Route: 048
  526. HYDROXYCHLOROQUINE [Suspect]
     Active Substance: HYDROXYCHLOROQUINE
     Route: 065
  527. HYDROXYCHLOROQUINE [Suspect]
     Active Substance: HYDROXYCHLOROQUINE
     Route: 058
  528. HYDROXYCHLOROQUINE [Suspect]
     Active Substance: HYDROXYCHLOROQUINE
     Route: 048
  529. HYDROXYCHLOROQUINE [Suspect]
     Active Substance: HYDROXYCHLOROQUINE
     Route: 058
  530. HYDROXYCHLOROQUINE [Suspect]
     Active Substance: HYDROXYCHLOROQUINE
     Route: 048
  531. HYDROXYCHLOROQUINE [Suspect]
     Active Substance: HYDROXYCHLOROQUINE
     Route: 048
  532. HYDROXYCHLOROQUINE [Suspect]
     Active Substance: HYDROXYCHLOROQUINE
     Route: 048
  533. HYDROXYCHLOROQUINE [Suspect]
     Active Substance: HYDROXYCHLOROQUINE
     Route: 065
  534. HYDROXYCHLOROQUINE [Suspect]
     Active Substance: HYDROXYCHLOROQUINE
     Route: 065
  535. HYDROXYCHLOROQUINE [Suspect]
     Active Substance: HYDROXYCHLOROQUINE
     Route: 048
  536. HYDROXYCHLOROQUINE [Suspect]
     Active Substance: HYDROXYCHLOROQUINE
  537. HYDROXYCHLOROQUINE [Suspect]
     Active Substance: HYDROXYCHLOROQUINE
     Route: 065
  538. HYDROXYCHLOROQUINE [Suspect]
     Active Substance: HYDROXYCHLOROQUINE
     Route: 065
  539. HYDROXYCHLOROQUINE [Suspect]
     Active Substance: HYDROXYCHLOROQUINE
  540. HYDROXYCHLOROQUINE [Suspect]
     Active Substance: HYDROXYCHLOROQUINE
     Route: 048
  541. HYDROXYCHLOROQUINE [Suspect]
     Active Substance: HYDROXYCHLOROQUINE
     Route: 048
  542. HYDROXYCHLOROQUINE [Suspect]
     Active Substance: HYDROXYCHLOROQUINE
     Route: 065
  543. HYDROXYCHLOROQUINE [Suspect]
     Active Substance: HYDROXYCHLOROQUINE
  544. HYDROXYCHLOROQUINE [Suspect]
     Active Substance: HYDROXYCHLOROQUINE
  545. HYDROXYCHLOROQUINE [Suspect]
     Active Substance: HYDROXYCHLOROQUINE
  546. HYDROXYCHLOROQUINE [Suspect]
     Active Substance: HYDROXYCHLOROQUINE
  547. HYDROXYCHLOROQUINE [Suspect]
     Active Substance: HYDROXYCHLOROQUINE
  548. HYDROXYCHLOROQUINE [Suspect]
     Active Substance: HYDROXYCHLOROQUINE
  549. HYDROXYCHLOROQUINE [Suspect]
     Active Substance: HYDROXYCHLOROQUINE
  550. HYDROXYCHLOROQUINE [Suspect]
     Active Substance: HYDROXYCHLOROQUINE
  551. IMURAN [Suspect]
     Active Substance: AZATHIOPRINE
  552. IMURAN [Suspect]
     Active Substance: AZATHIOPRINE
  553. DICLOFENAC DIETHYLAMINE [Suspect]
     Active Substance: DICLOFENAC DIETHYLAMINE
  554. DICLOFENAC DIETHYLAMINE [Suspect]
     Active Substance: DICLOFENAC DIETHYLAMINE
  555. ISOPROPYL ALCOHOL [Suspect]
     Active Substance: ISOPROPYL ALCOHOL
  556. ISOPROPYL ALCOHOL [Suspect]
     Active Substance: ISOPROPYL ALCOHOL
  557. KEVZARA [Suspect]
     Active Substance: SARILUMAB
     Route: 065
  558. KEVZARA [Suspect]
     Active Substance: SARILUMAB
  559. LAMICTAL [Suspect]
     Active Substance: LAMOTRIGINE
     Indication: Rheumatoid arthritis
     Route: 048
  560. LAMICTAL [Suspect]
     Active Substance: LAMOTRIGINE
     Route: 048
  561. LAMICTAL [Suspect]
     Active Substance: LAMOTRIGINE
     Route: 048
  562. LAMICTAL [Suspect]
     Active Substance: LAMOTRIGINE
     Route: 048
  563. LAMICTAL [Suspect]
     Active Substance: LAMOTRIGINE
     Route: 048
  564. LAMICTAL [Suspect]
     Active Substance: LAMOTRIGINE
     Route: 048
  565. LAMICTAL [Suspect]
     Active Substance: LAMOTRIGINE
  566. LAMICTAL [Suspect]
     Active Substance: LAMOTRIGINE
  567. FLUMETHASONE PIVALATE [Suspect]
     Active Substance: FLUMETHASONE PIVALATE
     Route: 065
  568. FLUMETHASONE PIVALATE [Suspect]
     Active Substance: FLUMETHASONE PIVALATE
     Route: 003
  569. FLUMETHASONE PIVALATE [Suspect]
     Active Substance: FLUMETHASONE PIVALATE
  570. FLUMETHASONE PIVALATE [Suspect]
     Active Substance: FLUMETHASONE PIVALATE
  571. MAGNESIUM CITRATE [Suspect]
     Active Substance: MAGNESIUM CITRATE
  572. MAGNESIUM CITRATE [Suspect]
     Active Substance: MAGNESIUM CITRATE
  573. MEGLUMINE [Suspect]
     Active Substance: MEGLUMINE
  574. MEGLUMINE [Suspect]
     Active Substance: MEGLUMINE
     Route: 040
  575. MEGLUMINE [Suspect]
     Active Substance: MEGLUMINE
  576. MEGLUMINE [Suspect]
     Active Substance: MEGLUMINE
  577. MYRBETRIQ [Suspect]
     Active Substance: MIRABEGRON
  578. MYRBETRIQ [Suspect]
     Active Substance: MIRABEGRON
  579. NEOMYCIN SULFATE [Suspect]
     Active Substance: NEOMYCIN SULFATE
  580. NEOMYCIN SULFATE [Suspect]
     Active Substance: NEOMYCIN SULFATE
  581. NICOTINAMIDE [Suspect]
     Active Substance: NIACINAMIDE
  582. NICOTINAMIDE [Suspect]
     Active Substance: NIACINAMIDE
  583. ORENCIA [Suspect]
     Active Substance: ABATACEPT
     Indication: Rheumatoid arthritis
  584. ORENCIA [Suspect]
     Active Substance: ABATACEPT
     Route: 065
  585. ORENCIA [Suspect]
     Active Substance: ABATACEPT
     Route: 042
  586. ORENCIA [Suspect]
     Active Substance: ABATACEPT
     Route: 042
  587. ORENCIA [Suspect]
     Active Substance: ABATACEPT
     Route: 065
  588. ORENCIA [Suspect]
     Active Substance: ABATACEPT
     Dosage: 125 MILLIGRAM, QWK
     Route: 058
  589. ORENCIA [Suspect]
     Active Substance: ABATACEPT
     Route: 058
  590. ORENCIA [Suspect]
     Active Substance: ABATACEPT
     Route: 058
  591. ORENCIA [Suspect]
     Active Substance: ABATACEPT
     Route: 065
  592. ORENCIA [Suspect]
     Active Substance: ABATACEPT
     Route: 042
  593. ORENCIA [Suspect]
     Active Substance: ABATACEPT
     Route: 040
  594. ORENCIA [Suspect]
     Active Substance: ABATACEPT
     Route: 040
  595. ORENCIA [Suspect]
     Active Substance: ABATACEPT
     Route: 040
  596. ORENCIA [Suspect]
     Active Substance: ABATACEPT
     Route: 065
  597. ORENCIA [Suspect]
     Active Substance: ABATACEPT
     Route: 065
  598. ORENCIA [Suspect]
     Active Substance: ABATACEPT
     Dosage: 120 MG, WEEKLY
     Route: 058
  599. ORENCIA [Suspect]
     Active Substance: ABATACEPT
     Route: 042
  600. ORENCIA [Suspect]
     Active Substance: ABATACEPT
     Route: 042
  601. ORENCIA [Suspect]
     Active Substance: ABATACEPT
  602. ORENCIA [Suspect]
     Active Substance: ABATACEPT
  603. ORENCIA [Suspect]
     Active Substance: ABATACEPT
  604. ORENCIA [Suspect]
     Active Substance: ABATACEPT
  605. OTEZLA [Suspect]
     Active Substance: APREMILAST
     Indication: Rheumatoid arthritis
     Route: 065
  606. OTEZLA [Suspect]
     Active Substance: APREMILAST
  607. OTEZLA [Suspect]
     Active Substance: APREMILAST
  608. OXYCODONE [Suspect]
     Active Substance: OXYCODONE
  609. OXYCODONE [Suspect]
     Active Substance: OXYCODONE
  610. ACETAMINOPHEN\CODEINE PHOSPHATE [Suspect]
     Active Substance: ACETAMINOPHEN\CODEINE PHOSPHATE
     Indication: Rheumatoid arthritis
  611. PANADOL [Suspect]
     Active Substance: ACETAMINOPHEN
     Indication: Rheumatoid arthritis
  612. PANADOL [Suspect]
     Active Substance: ACETAMINOPHEN
     Route: 065
  613. DICLOFENAC DIETHYLAMINE [Suspect]
     Active Substance: DICLOFENAC DIETHYLAMINE
  614. PERIOGARD [Suspect]
     Active Substance: CHLORHEXIDINE GLUCONATE
     Route: 002
  615. PERIOGARD [Suspect]
     Active Substance: CHLORHEXIDINE GLUCONATE
     Route: 061
  616. PERIOGARD [Suspect]
     Active Substance: CHLORHEXIDINE GLUCONATE
  617. PERIOGARD [Suspect]
     Active Substance: CHLORHEXIDINE GLUCONATE
  618. PHENYLEPHRINE HYDROCHLORIDE [Suspect]
     Active Substance: PHENYLEPHRINE HYDROCHLORIDE
     Indication: Rheumatoid arthritis
  619. PHENYLEPHRINE HYDROCHLORIDE [Suspect]
     Active Substance: PHENYLEPHRINE HYDROCHLORIDE
  620. PHOSPHORUS [Suspect]
     Active Substance: PHOSPHORUS
     Indication: Rheumatoid arthritis
  621. PHOSPHORUS [Suspect]
     Active Substance: PHOSPHORUS
  622. PHTHALYLSULFATHIAZOLE [Suspect]
     Active Substance: PHTHALYLSULFATHIAZOLE
     Indication: Rheumatoid arthritis
     Route: 058
  623. PHTHALYLSULFATHIAZOLE [Suspect]
     Active Substance: PHTHALYLSULFATHIAZOLE
     Route: 048
  624. PHTHALYLSULFATHIAZOLE [Suspect]
     Active Substance: PHTHALYLSULFATHIAZOLE
     Route: 058
  625. PHTHALYLSULFATHIAZOLE [Suspect]
     Active Substance: PHTHALYLSULFATHIAZOLE
     Route: 048
  626. PHTHALYLSULFATHIAZOLE [Suspect]
     Active Substance: PHTHALYLSULFATHIAZOLE
     Route: 065
  627. PHTHALYLSULFATHIAZOLE [Suspect]
     Active Substance: PHTHALYLSULFATHIAZOLE
     Route: 048
  628. PHTHALYLSULFATHIAZOLE [Suspect]
     Active Substance: PHTHALYLSULFATHIAZOLE
     Route: 065
  629. PHTHALYLSULFATHIAZOLE [Suspect]
     Active Substance: PHTHALYLSULFATHIAZOLE
     Route: 040
  630. PHTHALYLSULFATHIAZOLE [Suspect]
     Active Substance: PHTHALYLSULFATHIAZOLE
  631. PHTHALYLSULFATHIAZOLE [Suspect]
     Active Substance: PHTHALYLSULFATHIAZOLE
  632. PHTHALYLSULFATHIAZOLE [Suspect]
     Active Substance: PHTHALYLSULFATHIAZOLE
  633. PHTHALYLSULFATHIAZOLE [Suspect]
     Active Substance: PHTHALYLSULFATHIAZOLE
  634. PLAQUENIL [Suspect]
     Active Substance: HYDROXYCHLOROQUINE SULFATE
     Indication: Rheumatoid arthritis
     Route: 048
  635. PLAQUENIL [Suspect]
     Active Substance: HYDROXYCHLOROQUINE SULFATE
     Route: 048
  636. PLAQUENIL [Suspect]
     Active Substance: HYDROXYCHLOROQUINE SULFATE
  637. PLAQUENIL [Suspect]
     Active Substance: HYDROXYCHLOROQUINE SULFATE
  638. PREDNISONE [Suspect]
     Active Substance: PREDNISONE
     Indication: Rheumatoid arthritis
  639. PREDNISONE [Suspect]
     Active Substance: PREDNISONE
     Route: 048
  640. PREDNISONE [Suspect]
     Active Substance: PREDNISONE
     Route: 065
  641. PREDNISONE [Suspect]
     Active Substance: PREDNISONE
     Route: 065
  642. PREDNISONE [Suspect]
     Active Substance: PREDNISONE
     Route: 065
  643. PREDNISONE [Suspect]
     Active Substance: PREDNISONE
     Route: 048
  644. PREDNISONE [Suspect]
     Active Substance: PREDNISONE
     Route: 048
  645. PREDNISONE [Suspect]
     Active Substance: PREDNISONE
     Route: 048
  646. PREDNISONE [Suspect]
     Active Substance: PREDNISONE
     Route: 065
  647. PREDNISONE [Suspect]
     Active Substance: PREDNISONE
     Route: 065
  648. PREDNISONE [Suspect]
     Active Substance: PREDNISONE
     Route: 048
  649. PREDNISONE [Suspect]
     Active Substance: PREDNISONE
     Route: 065
  650. PREDNISONE [Suspect]
     Active Substance: PREDNISONE
     Route: 048
  651. PREDNISONE [Suspect]
     Active Substance: PREDNISONE
     Route: 065
  652. PREDNISONE [Suspect]
     Active Substance: PREDNISONE
     Route: 065
  653. PREDNISONE [Suspect]
     Active Substance: PREDNISONE
     Route: 048
  654. PREDNISONE [Suspect]
     Active Substance: PREDNISONE
     Route: 048
  655. PREDNISONE [Suspect]
     Active Substance: PREDNISONE
  656. PREDNISONE [Suspect]
     Active Substance: PREDNISONE
  657. PREDNISONE [Suspect]
     Active Substance: PREDNISONE
  658. PREPARATION H (COCOA BUTTER\PHENYLEPHRINE HYDROCHLORIDE) [Suspect]
     Active Substance: COCOA BUTTER\PHENYLEPHRINE HYDROCHLORIDE
  659. PREPARATION H (COCOA BUTTER\PHENYLEPHRINE HYDROCHLORIDE) [Suspect]
     Active Substance: COCOA BUTTER\PHENYLEPHRINE HYDROCHLORIDE
  660. RAMIPRIL [Suspect]
     Active Substance: RAMIPRIL
  661. RAMIPRIL [Suspect]
     Active Substance: RAMIPRIL
  662. CETIRIZINE HYDROCHLORIDE\PSEUDOEPHEDRINE HYDROCHLORIDE [Suspect]
     Active Substance: CETIRIZINE HYDROCHLORIDE\PSEUDOEPHEDRINE HYDROCHLORIDE
     Indication: Rheumatoid arthritis
     Route: 042
  663. CETIRIZINE HYDROCHLORIDE\PSEUDOEPHEDRINE HYDROCHLORIDE [Suspect]
     Active Substance: CETIRIZINE HYDROCHLORIDE\PSEUDOEPHEDRINE HYDROCHLORIDE
  664. CETIRIZINE HYDROCHLORIDE\PSEUDOEPHEDRINE HYDROCHLORIDE [Suspect]
     Active Substance: CETIRIZINE HYDROCHLORIDE\PSEUDOEPHEDRINE HYDROCHLORIDE
  665. CETIRIZINE HYDROCHLORIDE\PSEUDOEPHEDRINE HYDROCHLORIDE [Suspect]
     Active Substance: CETIRIZINE HYDROCHLORIDE\PSEUDOEPHEDRINE HYDROCHLORIDE
  666. CETIRIZINE HYDROCHLORIDE\PSEUDOEPHEDRINE HYDROCHLORIDE [Suspect]
     Active Substance: CETIRIZINE HYDROCHLORIDE\PSEUDOEPHEDRINE HYDROCHLORIDE
  667. CETIRIZINE HYDROCHLORIDE\PSEUDOEPHEDRINE HYDROCHLORIDE [Suspect]
     Active Substance: CETIRIZINE HYDROCHLORIDE\PSEUDOEPHEDRINE HYDROCHLORIDE
  668. REMICADE [Suspect]
     Active Substance: INFLIXIMAB
     Indication: Rheumatoid arthritis
  669. REMICADE [Suspect]
     Active Substance: INFLIXIMAB
     Route: 042
  670. REMICADE [Suspect]
     Active Substance: INFLIXIMAB
     Route: 065
  671. REMICADE [Suspect]
     Active Substance: INFLIXIMAB
     Route: 042
  672. REMICADE [Suspect]
     Active Substance: INFLIXIMAB
     Route: 058
  673. REMICADE [Suspect]
     Active Substance: INFLIXIMAB
     Route: 042
  674. REMICADE [Suspect]
     Active Substance: INFLIXIMAB
     Route: 042
  675. REMICADE [Suspect]
     Active Substance: INFLIXIMAB
     Route: 040
  676. REMICADE [Suspect]
     Active Substance: INFLIXIMAB
     Route: 040
  677. REMICADE [Suspect]
     Active Substance: INFLIXIMAB
     Route: 040
  678. REMICADE [Suspect]
     Active Substance: INFLIXIMAB
     Route: 040
  679. REMICADE [Suspect]
     Active Substance: INFLIXIMAB
     Route: 042
  680. REMICADE [Suspect]
     Active Substance: INFLIXIMAB
     Route: 058
  681. REMICADE [Suspect]
     Active Substance: INFLIXIMAB
  682. REMICADE [Suspect]
     Active Substance: INFLIXIMAB
     Route: 042
  683. REMICADE [Suspect]
     Active Substance: INFLIXIMAB
     Route: 058
  684. REMICADE [Suspect]
     Active Substance: INFLIXIMAB
  685. REMICADE [Suspect]
     Active Substance: INFLIXIMAB
  686. REMICADE [Suspect]
     Active Substance: INFLIXIMAB
  687. REMICADE [Suspect]
     Active Substance: INFLIXIMAB
  688. REMICADE [Suspect]
     Active Substance: INFLIXIMAB
  689. RITUXAN [Suspect]
     Active Substance: RITUXIMAB
     Indication: Rheumatoid arthritis
     Dates: start: 201304, end: 201308
  690. RITUXAN [Suspect]
     Active Substance: RITUXIMAB
     Route: 042
  691. DIETARY SUPPLEMENT\HERBALS [Suspect]
     Active Substance: DIETARY SUPPLEMENT\HERBALS
  692. DIETARY SUPPLEMENT\HERBALS [Suspect]
     Active Substance: DIETARY SUPPLEMENT\HERBALS
  693. ASCORBIC ACID [Suspect]
     Active Substance: ASCORBIC ACID
  694. ASCORBIC ACID [Suspect]
     Active Substance: ASCORBIC ACID
  695. SIMPONI [Suspect]
     Active Substance: GOLIMUMAB
     Indication: Prostatic specific antigen
  696. SIMPONI [Suspect]
     Active Substance: GOLIMUMAB
     Indication: Rheumatoid arthritis
     Route: 058
  697. SIMPONI [Suspect]
     Active Substance: GOLIMUMAB
     Route: 065
  698. SIMPONI [Suspect]
     Active Substance: GOLIMUMAB
     Route: 058
  699. SIMPONI [Suspect]
     Active Substance: GOLIMUMAB
     Route: 058
  700. SIMPONI [Suspect]
     Active Substance: GOLIMUMAB
  701. SIMPONI [Suspect]
     Active Substance: GOLIMUMAB
  702. SODIUM AUROTIOSULFATE [Suspect]
     Active Substance: SODIUM AUROTIOSULFATE
     Route: 030
  703. SODIUM AUROTIOSULFATE [Suspect]
     Active Substance: SODIUM AUROTIOSULFATE
  704. SULFAMETHOXAZOLE [Suspect]
     Active Substance: SULFAMETHOXAZOLE
  705. SULFAMETHOXAZOLE [Suspect]
     Active Substance: SULFAMETHOXAZOLE
  706. TOCILIZUMAB [Suspect]
     Active Substance: TOCILIZUMAB
     Indication: Rheumatoid arthritis
  707. TOCILIZUMAB [Suspect]
     Active Substance: TOCILIZUMAB
     Route: 065
  708. TOCILIZUMAB [Suspect]
     Active Substance: TOCILIZUMAB
     Route: 058
  709. TOCILIZUMAB [Suspect]
     Active Substance: TOCILIZUMAB
     Route: 058
  710. TOCILIZUMAB [Suspect]
     Active Substance: TOCILIZUMAB
     Route: 042
  711. TOCILIZUMAB [Suspect]
     Active Substance: TOCILIZUMAB
     Route: 065
  712. TOCILIZUMAB [Suspect]
     Active Substance: TOCILIZUMAB
     Route: 040
  713. TOCILIZUMAB [Suspect]
     Active Substance: TOCILIZUMAB
     Route: 040
  714. TOCILIZUMAB [Suspect]
     Active Substance: TOCILIZUMAB
     Route: 065
  715. TOCILIZUMAB [Suspect]
     Active Substance: TOCILIZUMAB
  716. TOCILIZUMAB [Suspect]
     Active Substance: TOCILIZUMAB
  717. TOCILIZUMAB [Suspect]
     Active Substance: TOCILIZUMAB
  718. TOCILIZUMAB [Suspect]
     Active Substance: TOCILIZUMAB
  719. TOPIRAMATE [Suspect]
     Active Substance: TOPIRAMATE
  720. TOPIRAMATE [Suspect]
     Active Substance: TOPIRAMATE
  721. TOPIRAMATE [Suspect]
     Active Substance: TOPIRAMATE
     Route: 065
  722. TOPIRAMATE [Suspect]
     Active Substance: TOPIRAMATE
     Route: 065
  723. TOPIRAMATE [Suspect]
     Active Substance: TOPIRAMATE
  724. TRAMADOL HYDROCHLORIDE [Suspect]
     Active Substance: TRAMADOL HYDROCHLORIDE
     Indication: Rheumatoid arthritis
     Route: 065
  725. TRAMADOL HYDROCHLORIDE [Suspect]
     Active Substance: TRAMADOL HYDROCHLORIDE
     Route: 013
  726. TRAMADOL HYDROCHLORIDE [Suspect]
     Active Substance: TRAMADOL HYDROCHLORIDE
  727. TRAMADOL HYDROCHLORIDE [Suspect]
     Active Substance: TRAMADOL HYDROCHLORIDE
  728. TRAZODONE [Suspect]
     Active Substance: TRAZODONE HYDROCHLORIDE
  729. TRETINOIN [Suspect]
     Active Substance: TRETINOIN
     Route: 065
  730. TRETINOIN [Suspect]
     Active Substance: TRETINOIN
  731. SULFAMETHOXAZOLE\TRIMETHOPRIM [Suspect]
     Active Substance: SULFAMETHOXAZOLE\TRIMETHOPRIM
     Route: 065
  732. SULFAMETHOXAZOLE\TRIMETHOPRIM [Suspect]
     Active Substance: SULFAMETHOXAZOLE\TRIMETHOPRIM
  733. THIAMINE HYDROCHLORIDE [Suspect]
     Active Substance: THIAMINE HYDROCHLORIDE
  734. THIAMINE HYDROCHLORIDE [Suspect]
     Active Substance: THIAMINE HYDROCHLORIDE
  735. TRIAMCINOLONE ACETONIDE [Suspect]
     Active Substance: TRIAMCINOLONE ACETONIDE
  736. TRIAMCINOLONE ACETONIDE [Suspect]
     Active Substance: TRIAMCINOLONE ACETONIDE
  737. RETINOL [Suspect]
     Active Substance: RETINOL
  738. RETINOL [Suspect]
     Active Substance: RETINOL
  739. DICLOFENAC [Suspect]
     Active Substance: DICLOFENAC
  740. DICLOFENAC [Suspect]
     Active Substance: DICLOFENAC
  741. DICLOFENAC DIETHYLAMINE [Suspect]
     Active Substance: DICLOFENAC DIETHYLAMINE
  742. DICLOFENAC DIETHYLAMINE [Suspect]
     Active Substance: DICLOFENAC DIETHYLAMINE
  743. BERINERT [Suspect]
     Active Substance: HUMAN C1-ESTERASE INHIBITOR
  744. BERINERT [Suspect]
     Active Substance: HUMAN C1-ESTERASE INHIBITOR
  745. BOTULINUM TOXIN TYPE A [Suspect]
     Active Substance: BOTULINUM TOXIN TYPE A
     Route: 065
  746. BOTULINUM TOXIN TYPE A [Suspect]
     Active Substance: BOTULINUM TOXIN TYPE A
  747. DICLOFENAC SODIUM [Suspect]
     Active Substance: DICLOFENAC SODIUM
     Route: 065
  748. DICLOFENAC SODIUM [Suspect]
     Active Substance: DICLOFENAC SODIUM
  749. ACETAMINOPHEN\TRAMADOL HYDROCHLORIDE [Suspect]
     Active Substance: ACETAMINOPHEN\TRAMADOL HYDROCHLORIDE
     Route: 065
  750. ACETAMINOPHEN\TRAMADOL HYDROCHLORIDE [Suspect]
     Active Substance: ACETAMINOPHEN\TRAMADOL HYDROCHLORIDE
  751. DICLOFENAC POTASSIUM [Suspect]
     Active Substance: DICLOFENAC POTASSIUM
     Route: 065
  752. DICLOFENAC POTASSIUM [Suspect]
     Active Substance: DICLOFENAC POTASSIUM
     Route: 065
  753. DICLOFENAC POTASSIUM [Suspect]
     Active Substance: DICLOFENAC POTASSIUM
     Route: 065
  754. DICLOFENAC POTASSIUM [Suspect]
     Active Substance: DICLOFENAC POTASSIUM
  755. DICLOFENAC POTASSIUM [Suspect]
     Active Substance: DICLOFENAC POTASSIUM
  756. DICLOFENAC POTASSIUM [Suspect]
     Active Substance: DICLOFENAC POTASSIUM
  757. ASCORBIC ACID [Suspect]
     Active Substance: ASCORBIC ACID
  758. ASCORBIC ACID [Suspect]
     Active Substance: ASCORBIC ACID
  759. CELEBREX [Suspect]
     Active Substance: CELECOXIB
  760. CELEBREX [Suspect]
     Active Substance: CELECOXIB
     Route: 048
  761. CELEBREX [Suspect]
     Active Substance: CELECOXIB
     Route: 065
  762. CELEBREX [Suspect]
     Active Substance: CELECOXIB
     Route: 065
  763. CELEBREX [Suspect]
     Active Substance: CELECOXIB
     Route: 065
  764. CELEBREX [Suspect]
     Active Substance: CELECOXIB
     Route: 065
  765. CHLORHEXIDINE GLUCONATE [Suspect]
     Active Substance: CHLORHEXIDINE GLUCONATE
     Route: 065
  766. CHLORHEXIDINE GLUCONATE [Suspect]
     Active Substance: CHLORHEXIDINE GLUCONATE
     Route: 065
  767. CHLORHEXIDINE GLUCONATE [Suspect]
     Active Substance: CHLORHEXIDINE GLUCONATE
     Route: 065
  768. CHLORHEXIDINE GLUCONATE [Suspect]
     Active Substance: CHLORHEXIDINE GLUCONATE
  769. CHLORHEXIDINE GLUCONATE [Suspect]
     Active Substance: CHLORHEXIDINE GLUCONATE
  770. CHLORHEXIDINE GLUCONATE [Suspect]
     Active Substance: CHLORHEXIDINE GLUCONATE
  771. CHOLECALCIFEROL [Suspect]
     Active Substance: CHOLECALCIFEROL
     Route: 065
  772. CHOLECALCIFEROL [Suspect]
     Active Substance: CHOLECALCIFEROL
  773. DICLOFENAC [Suspect]
     Active Substance: DICLOFENAC
     Route: 065
  774. DICLOFENAC [Suspect]
     Active Substance: DICLOFENAC
  775. DOMPERIDONE MALEATE [Suspect]
     Active Substance: DOMPERIDONE MALEATE
     Route: 065
  776. DOMPERIDONE MALEATE [Suspect]
     Active Substance: DOMPERIDONE MALEATE
  777. MENTHOL\ZINC OXIDE [Suspect]
     Active Substance: MENTHOL\ZINC OXIDE
     Route: 065
  778. MENTHOL\ZINC OXIDE [Suspect]
     Active Substance: MENTHOL\ZINC OXIDE
  779. CLIOQUINOL\FLUMETHASONE [Suspect]
     Active Substance: CLIOQUINOL\FLUMETHASONE
     Route: 065
  780. CLIOQUINOL\FLUMETHASONE [Suspect]
     Active Substance: CLIOQUINOL\FLUMETHASONE
  781. TETRACYCLINE HYDROCHLORIDE [Suspect]
     Active Substance: TETRACYCLINE HYDROCHLORIDE
     Indication: Rheumatoid arthritis
     Route: 065
  782. TETRACYCLINE HYDROCHLORIDE [Suspect]
     Active Substance: TETRACYCLINE HYDROCHLORIDE
  783. MINOCYCLINE [Suspect]
     Active Substance: MINOCYCLINE HYDROCHLORIDE
     Indication: Rheumatoid arthritis
     Route: 065
  784. MINOCYCLINE [Suspect]
     Active Substance: MINOCYCLINE HYDROCHLORIDE
  785. MYOCHRYSINE [Suspect]
     Active Substance: GOLD SODIUM THIOMALATE
     Indication: Rheumatoid arthritis
     Route: 030
  786. MYOCHRYSINE [Suspect]
     Active Substance: GOLD SODIUM THIOMALATE
  787. NUCALA [Suspect]
     Active Substance: MEPOLIZUMAB
     Route: 065
  788. NUCALA [Suspect]
     Active Substance: MEPOLIZUMAB
  789. NAPROXEN [Suspect]
     Active Substance: NAPROXEN
     Route: 065
  790. NAPROXEN [Suspect]
     Active Substance: NAPROXEN
     Route: 065
  791. NAPROXEN [Suspect]
     Active Substance: NAPROXEN
     Route: 065
  792. NAPROXEN [Suspect]
     Active Substance: NAPROXEN
  793. OXYCODONE TEREPHTHALATE [Suspect]
     Active Substance: OXYCODONE TEREPHTHALATE
  794. OXYCODONE TEREPHTHALATE [Suspect]
     Active Substance: OXYCODONE TEREPHTHALATE
  795. RANITIDINE [Suspect]
     Active Substance: RANITIDINE
     Route: 065
  796. RANITIDINE [Suspect]
     Active Substance: RANITIDINE
  797. SARILUMAB [Suspect]
     Active Substance: SARILUMAB
     Route: 065
  798. SARILUMAB [Suspect]
     Active Substance: SARILUMAB
  799. SIRUKUMAB [Suspect]
     Active Substance: SIRUKUMAB
     Route: 065
  800. SIRUKUMAB [Suspect]
     Active Substance: SIRUKUMAB
     Route: 065
  801. SIRUKUMAB [Suspect]
     Active Substance: SIRUKUMAB
     Route: 065
  802. SIRUKUMAB [Suspect]
     Active Substance: SIRUKUMAB
     Route: 048
  803. SIRUKUMAB [Suspect]
     Active Substance: SIRUKUMAB
     Route: 065
  804. SIRUKUMAB [Suspect]
     Active Substance: SIRUKUMAB
  805. SIRUKUMAB [Suspect]
     Active Substance: SIRUKUMAB
  806. SIRUKUMAB [Suspect]
     Active Substance: SIRUKUMAB
  807. SIRUKUMAB [Suspect]
     Active Substance: SIRUKUMAB
  808. SIRUKUMAB [Suspect]
     Active Substance: SIRUKUMAB
  809. GOLD SODIUM THIOMALATE [Suspect]
     Active Substance: GOLD SODIUM THIOMALATE
     Route: 065
  810. GOLD SODIUM THIOMALATE [Suspect]
     Active Substance: GOLD SODIUM THIOMALATE
     Route: 065
  811. GOLD SODIUM THIOMALATE [Suspect]
     Active Substance: GOLD SODIUM THIOMALATE
     Route: 048
  812. GOLD SODIUM THIOMALATE [Suspect]
     Active Substance: GOLD SODIUM THIOMALATE
     Route: 065
  813. GOLD SODIUM THIOMALATE [Suspect]
     Active Substance: GOLD SODIUM THIOMALATE
  814. GOLD SODIUM THIOMALATE [Suspect]
     Active Substance: GOLD SODIUM THIOMALATE
  815. GOLD SODIUM THIOMALATE [Suspect]
     Active Substance: GOLD SODIUM THIOMALATE
  816. GOLD SODIUM THIOMALATE [Suspect]
     Active Substance: GOLD SODIUM THIOMALATE
  817. STELARA [Suspect]
     Active Substance: USTEKINUMAB
     Indication: Rheumatoid arthritis
     Route: 058
  818. STELARA [Suspect]
     Active Substance: USTEKINUMAB
  819. TETRACYCLINE HYDROCHLORIDE [Suspect]
     Active Substance: TETRACYCLINE HYDROCHLORIDE
     Indication: Rheumatoid arthritis
  820. TETRACYCLINE HYDROCHLORIDE [Suspect]
     Active Substance: TETRACYCLINE HYDROCHLORIDE
  821. CALCIUM ASCORBATE [Suspect]
     Active Substance: CALCIUM ASCORBATE
     Route: 065
  822. CALCIUM ASCORBATE [Suspect]
     Active Substance: CALCIUM ASCORBATE
     Route: 065
  823. CALCIUM ASCORBATE [Suspect]
     Active Substance: CALCIUM ASCORBATE
  824. CALCIUM ASCORBATE [Suspect]
     Active Substance: CALCIUM ASCORBATE
  825. CALCIUM CARBONATE\CHOLECALCIFEROL [Suspect]
     Active Substance: CALCIUM CARBONATE\CHOLECALCIFEROL
  826. CALCIUM CARBONATE\CHOLECALCIFEROL [Suspect]
     Active Substance: CALCIUM CARBONATE\CHOLECALCIFEROL
  827. CALCIUM CITRATE [Suspect]
     Active Substance: CALCIUM CITRATE
     Route: 065
  828. CALCIUM CITRATE [Suspect]
     Active Substance: CALCIUM CITRATE
  829. HYRIMOZ [Suspect]
     Active Substance: ADALIMUMAB-ADAZ
     Indication: Rheumatoid arthritis
  830. CAFFEINE\CHLORPHENIRAMINE\PHENYLPROPANOLAMINE [Suspect]
     Active Substance: CAFFEINE\CHLORPHENIRAMINE\PHENYLPROPANOLAMINE
  831. CAFFEINE\CHLORPHENIRAMINE\PHENYLPROPANOLAMINE [Suspect]
     Active Substance: CAFFEINE\CHLORPHENIRAMINE\PHENYLPROPANOLAMINE
  832. HYDROCORTISONE SODIUM SUCCINATE [Suspect]
     Active Substance: HYDROCORTISONE SODIUM SUCCINATE
  833. HYDROCORTISONE SODIUM SUCCINATE [Suspect]
     Active Substance: HYDROCORTISONE SODIUM SUCCINATE
     Route: 048
  834. HYDROCORTISONE SODIUM SUCCINATE [Suspect]
     Active Substance: HYDROCORTISONE SODIUM SUCCINATE
  835. METHYLPREDNISOLONE SODIUM SUCCINATE [Suspect]
     Active Substance: METHYLPREDNISOLONE SODIUM SUCCINATE
  836. METHYLPREDNISOLONE SODIUM SUCCINATE [Suspect]
     Active Substance: METHYLPREDNISOLONE SODIUM SUCCINATE
  837. APREMILAST [Suspect]
     Active Substance: APREMILAST
  838. APREMILAST [Suspect]
     Active Substance: APREMILAST
  839. LEFLUNOMIDE [Suspect]
     Active Substance: LEFLUNOMIDE
     Indication: Rheumatoid arthritis
  840. AZATHIOPRINE [Suspect]
     Active Substance: AZATHIOPRINE
  841. AZATHIOPRINE [Suspect]
     Active Substance: AZATHIOPRINE
  842. PANTOPRAZOLE SODIUM ANHYDROUS [Suspect]
     Active Substance: PANTOPRAZOLE SODIUM ANHYDROUS
  843. PANTOPRAZOLE SODIUM ANHYDROUS [Suspect]
     Active Substance: PANTOPRAZOLE SODIUM ANHYDROUS
  844. CALCIUM GLUCONATE [Suspect]
     Active Substance: CALCIUM GLUCONATE
  845. CALCIUM GLUCONATE [Suspect]
     Active Substance: CALCIUM GLUCONATE
  846. CELECOXIB [Suspect]
     Active Substance: CELECOXIB
  847. CELECOXIB [Suspect]
     Active Substance: CELECOXIB
     Route: 058
  848. CELECOXIB [Suspect]
     Active Substance: CELECOXIB
     Route: 065
  849. CELECOXIB [Suspect]
     Active Substance: CELECOXIB
     Route: 065
  850. CHLORHEXIDINE [Suspect]
     Active Substance: CHLORHEXIDINE
  851. CHLORHEXIDINE [Suspect]
     Active Substance: CHLORHEXIDINE
  852. CHLORHEXIDINE GLUCONATE\ISOPROPYL ALCOHOL [Suspect]
     Active Substance: CHLORHEXIDINE GLUCONATE\ISOPROPYL ALCOHOL
     Route: 048
  853. CHLORHEXIDINE GLUCONATE\ISOPROPYL ALCOHOL [Suspect]
     Active Substance: CHLORHEXIDINE GLUCONATE\ISOPROPYL ALCOHOL
     Route: 065
  854. CHLORHEXIDINE GLUCONATE\ISOPROPYL ALCOHOL [Suspect]
     Active Substance: CHLORHEXIDINE GLUCONATE\ISOPROPYL ALCOHOL
  855. CHLORHEXIDINE GLUCONATE\ISOPROPYL ALCOHOL [Suspect]
     Active Substance: CHLORHEXIDINE GLUCONATE\ISOPROPYL ALCOHOL
  856. DICLOFENAC POTASSIUM [Suspect]
     Active Substance: DICLOFENAC POTASSIUM
  857. DILTIAZEM HYDROCHLORIDE [Suspect]
     Active Substance: DILTIAZEM HYDROCHLORIDE
     Route: 040
  858. DILTIAZEM HYDROCHLORIDE [Suspect]
     Active Substance: DILTIAZEM HYDROCHLORIDE
     Route: 065
  859. DILTIAZEM HYDROCHLORIDE [Suspect]
     Active Substance: DILTIAZEM HYDROCHLORIDE
  860. DOXYCYCLINE HYCLATE [Suspect]
     Active Substance: DOXYCYCLINE HYCLATE
  861. SULFISOMIDINE [Suspect]
     Active Substance: SULFISOMIDINE
  862. SULFISOMIDINE [Suspect]
     Active Substance: SULFISOMIDINE
  863. ENTYVIO [Suspect]
     Active Substance: VEDOLIZUMAB
     Route: 065
  864. ENTYVIO [Suspect]
     Active Substance: VEDOLIZUMAB
  865. FRAMYCETIN SULFATE [Suspect]
     Active Substance: FRAMYCETIN SULFATE
     Route: 065
  866. FRAMYCETIN SULFATE [Suspect]
     Active Substance: FRAMYCETIN SULFATE
  867. GOLIMUMAB [Suspect]
     Active Substance: GOLIMUMAB
     Route: 065
  868. GOLIMUMAB [Suspect]
     Active Substance: GOLIMUMAB
  869. GRAMICIDIN [Suspect]
     Active Substance: GRAMICIDIN
     Route: 065
  870. GRAMICIDIN [Suspect]
     Active Substance: GRAMICIDIN
  871. CLONIDINE HYDROCHLORIDE [Suspect]
     Active Substance: CLONIDINE HYDROCHLORIDE
     Route: 065
  872. CLONIDINE HYDROCHLORIDE [Suspect]
     Active Substance: CLONIDINE HYDROCHLORIDE
  873. LYRICA [Suspect]
     Active Substance: PREGABALIN
  874. LYRICA [Suspect]
     Active Substance: PREGABALIN
  875. MESALAMINE [Suspect]
     Active Substance: MESALAMINE
  876. MESALAMINE [Suspect]
     Active Substance: MESALAMINE
  877. MORPHINE SULFATE [Suspect]
     Active Substance: MORPHINE SULFATE
     Route: 065
  878. MORPHINE SULFATE [Suspect]
     Active Substance: MORPHINE SULFATE
  879. MYCOPHENOLATE MOFETIL [Suspect]
     Active Substance: MYCOPHENOLATE MOFETIL
     Route: 065
  880. MYCOPHENOLATE MOFETIL [Suspect]
     Active Substance: MYCOPHENOLATE MOFETIL
  881. NITROFURAZONE [Suspect]
     Active Substance: NITROFURAZONE
  882. NITROFURAZONE [Suspect]
     Active Substance: NITROFURAZONE
     Route: 048
  883. NITROFURAZONE [Suspect]
     Active Substance: NITROFURAZONE
  884. OXYCODONE TEREPHTHALATE [Suspect]
     Active Substance: OXYCODONE TEREPHTHALATE
     Route: 065
  885. OXYCODONE TEREPHTHALATE [Suspect]
     Active Substance: OXYCODONE TEREPHTHALATE
  886. PARA-AMINOSALICYLIC ACID [Suspect]
     Active Substance: AMINOSALICYLIC ACID
  887. PARA-AMINOSALICYLIC ACID [Suspect]
     Active Substance: AMINOSALICYLIC ACID
     Route: 048
  888. PARA-AMINOSALICYLIC ACID [Suspect]
     Active Substance: AMINOSALICYLIC ACID
     Route: 048
  889. PARA-AMINOSALICYLIC ACID [Suspect]
     Active Substance: AMINOSALICYLIC ACID
     Route: 065
  890. PARA-AMINOSALICYLIC ACID [Suspect]
     Active Substance: AMINOSALICYLIC ACID
     Route: 016
  891. PARA-AMINOSALICYLIC ACID [Suspect]
     Active Substance: AMINOSALICYLIC ACID
     Route: 058
  892. PARA-AMINOSALICYLIC ACID [Suspect]
     Active Substance: AMINOSALICYLIC ACID
  893. PSEUDOEPHEDRINE HYDROCHLORIDE [Suspect]
     Active Substance: PSEUDOEPHEDRINE HYDROCHLORIDE
  894. PSEUDOEPHEDRINE HYDROCHLORIDE [Suspect]
     Active Substance: PSEUDOEPHEDRINE HYDROCHLORIDE
     Route: 065
  895. PSEUDOEPHEDRINE HYDROCHLORIDE [Suspect]
     Active Substance: PSEUDOEPHEDRINE HYDROCHLORIDE
     Route: 065
  896. PSEUDOEPHEDRINE HYDROCHLORIDE [Suspect]
     Active Substance: PSEUDOEPHEDRINE HYDROCHLORIDE
     Route: 065
  897. PSEUDOEPHEDRINE HYDROCHLORIDE [Suspect]
     Active Substance: PSEUDOEPHEDRINE HYDROCHLORIDE
  898. QUETIAPINE FUMARATE [Suspect]
     Active Substance: QUETIAPINE FUMARATE
     Route: 065
  899. QUETIAPINE FUMARATE [Suspect]
     Active Substance: QUETIAPINE FUMARATE
  900. SALICYLIC ACID [Suspect]
     Active Substance: SALICYLIC ACID
  901. SALICYLIC ACID [Suspect]
     Active Substance: SALICYLIC ACID
  902. SODIUM FLUORIDE [Suspect]
     Active Substance: SODIUM FLUORIDE
     Route: 065
  903. SODIUM FLUORIDE [Suspect]
     Active Substance: SODIUM FLUORIDE
  904. THYMOL [Suspect]
     Active Substance: THYMOL
     Route: 048
  905. THYMOL [Suspect]
     Active Substance: THYMOL
     Route: 048
  906. THYMOL [Suspect]
     Active Substance: THYMOL
  907. TRICLOSAN [Suspect]
     Active Substance: TRICLOSAN
     Route: 065
  908. TRICLOSAN [Suspect]
     Active Substance: TRICLOSAN
  909. TYROTHRICIN [Suspect]
     Active Substance: TYROTHRICIN
     Route: 065
  910. TYROTHRICIN [Suspect]
     Active Substance: TYROTHRICIN
  911. VITAMIN D3 [Suspect]
     Active Substance: CHOLECALCIFEROL
     Route: 065
  912. VITAMIN D3 [Suspect]
     Active Substance: CHOLECALCIFEROL
     Route: 058
  913. VITAMIN D3 [Suspect]
     Active Substance: CHOLECALCIFEROL
     Route: 016
  914. VITAMIN D3 [Suspect]
     Active Substance: CHOLECALCIFEROL
  915. VITAMIN D3 [Suspect]
     Active Substance: CHOLECALCIFEROL
  916. VITAMIN D3 [Suspect]
     Active Substance: CHOLECALCIFEROL
  917. ALENDRONATE SODIUM [Suspect]
     Active Substance: ALENDRONATE SODIUM
     Indication: Rheumatoid arthritis
     Route: 065
  918. ALENDRONATE SODIUM [Suspect]
     Active Substance: ALENDRONATE SODIUM
     Route: 048
  919. ALENDRONATE SODIUM [Suspect]
     Active Substance: ALENDRONATE SODIUM
     Route: 065
  920. ALENDRONATE SODIUM [Suspect]
     Active Substance: ALENDRONATE SODIUM
     Route: 048
  921. ALENDRONATE SODIUM [Suspect]
     Active Substance: ALENDRONATE SODIUM
     Route: 016
  922. ALENDRONATE SODIUM [Suspect]
     Active Substance: ALENDRONATE SODIUM
  923. ALENDRONATE SODIUM [Suspect]
     Active Substance: ALENDRONATE SODIUM
  924. ALENDRONATE SODIUM [Suspect]
     Active Substance: ALENDRONATE SODIUM
  925. ALENDRONATE SODIUM [Suspect]
     Active Substance: ALENDRONATE SODIUM
  926. ALENDRONATE SODIUM [Suspect]
     Active Substance: ALENDRONATE SODIUM
  927. METFORMIN HYDROCHLORIDE [Suspect]
     Active Substance: METFORMIN HYDROCHLORIDE
  928. METFORMIN HYDROCHLORIDE [Suspect]
     Active Substance: METFORMIN HYDROCHLORIDE
  929. VOLTARENE (DICLOFENAC SODIUM) [Suspect]
     Active Substance: DICLOFENAC SODIUM
     Indication: Rheumatoid arthritis
     Route: 065
  930. VOLTARENE (DICLOFENAC SODIUM) [Suspect]
     Active Substance: DICLOFENAC SODIUM
     Route: 058
  931. VOLTARENE (DICLOFENAC SODIUM) [Suspect]
     Active Substance: DICLOFENAC SODIUM
  932. HYDROCORTISONE [Suspect]
     Active Substance: HYDROCORTISONE
     Route: 065
  933. HYDROCORTISONE [Suspect]
     Active Substance: HYDROCORTISONE
     Route: 065
  934. HYDROCORTISONE [Suspect]
     Active Substance: HYDROCORTISONE
  935. HYDROCORTISONE [Suspect]
     Active Substance: HYDROCORTISONE
  936. ATOMOXETINE [Suspect]
     Active Substance: ATOMOXETINE
     Indication: Migraine
  937. ATOMOXETINE [Suspect]
     Active Substance: ATOMOXETINE
     Route: 065
  938. ATOMOXETINE [Suspect]
     Active Substance: ATOMOXETINE
     Route: 065
  939. ATOMOXETINE [Suspect]
     Active Substance: ATOMOXETINE
     Route: 065
  940. ATOMOXETINE [Suspect]
     Active Substance: ATOMOXETINE
     Route: 065
  941. ATOMOXETINE [Suspect]
     Active Substance: ATOMOXETINE
     Route: 065
  942. ATOMOXETINE [Suspect]
     Active Substance: ATOMOXETINE
  943. GOLD [Suspect]
     Active Substance: GOLD
     Route: 065
  944. GOLD [Suspect]
     Active Substance: GOLD
  945. ERGOCALCIFEROL [Suspect]
     Active Substance: ERGOCALCIFEROL
  946. ERGOCALCIFEROL [Suspect]
     Active Substance: ERGOCALCIFEROL
     Route: 065
  947. FLUMETHASONE [Suspect]
     Active Substance: FLUMETHASONE
     Route: 065
  948. FLUMETHASONE [Suspect]
     Active Substance: FLUMETHASONE
  949. LEFLUNOMIDE [Suspect]
     Active Substance: LEFLUNOMIDE
     Indication: Rheumatoid arthritis
  950. LEFLUNOMIDE [Suspect]
     Active Substance: LEFLUNOMIDE
     Route: 065
  951. LEFLUNOMIDE [Suspect]
     Active Substance: LEFLUNOMIDE
     Route: 065
  952. LEFLUNOMIDE [Suspect]
     Active Substance: LEFLUNOMIDE
     Route: 065
  953. LEFLUNOMIDE [Suspect]
     Active Substance: LEFLUNOMIDE
     Route: 065
  954. LEFLUNOMIDE [Suspect]
     Active Substance: LEFLUNOMIDE
     Route: 065
  955. LEFLUNOMIDE [Suspect]
     Active Substance: LEFLUNOMIDE
     Route: 065
  956. LEFLUNOMIDE [Suspect]
     Active Substance: LEFLUNOMIDE
     Route: 048
  957. LEFLUNOMIDE [Suspect]
     Active Substance: LEFLUNOMIDE
     Route: 048
  958. LEFLUNOMIDE [Suspect]
     Active Substance: LEFLUNOMIDE
     Route: 065
  959. LEFLUNOMIDE [Suspect]
     Active Substance: LEFLUNOMIDE
     Route: 065
  960. LEFLUNOMIDE [Suspect]
     Active Substance: LEFLUNOMIDE
     Route: 065
  961. LEFLUNOMIDE [Suspect]
     Active Substance: LEFLUNOMIDE
  962. LEFLUNOMIDE [Suspect]
     Active Substance: LEFLUNOMIDE
  963. LEFLUNOMIDE [Suspect]
     Active Substance: LEFLUNOMIDE
  964. HYDROCORTISONE PROBUTATE [Suspect]
     Active Substance: HYDROCORTISONE PROBUTATE
     Route: 065
  965. HYDROCORTISONE PROBUTATE [Suspect]
     Active Substance: HYDROCORTISONE PROBUTATE
  966. HAIR KERATIN AMINO ACIDS GOLD COMPLEX [Suspect]
     Active Substance: HAIR KERATIN AMINO ACIDS GOLD COMPLEX
     Indication: Rheumatoid arthritis
     Route: 065
  967. HAIR KERATIN AMINO ACIDS GOLD COMPLEX [Suspect]
     Active Substance: HAIR KERATIN AMINO ACIDS GOLD COMPLEX
  968. NAPROXEN SODIUM [Suspect]
     Active Substance: NAPROXEN SODIUM
  969. NAPROXEN SODIUM [Suspect]
     Active Substance: NAPROXEN SODIUM
     Route: 065
  970. PSEUDOEPHEDRINE [Suspect]
     Active Substance: PSEUDOEPHEDRINE
     Route: 065
  971. PSEUDOEPHEDRINE [Suspect]
     Active Substance: PSEUDOEPHEDRINE
  972. HYDROXYCHLOROQUINE DIPHOSPHATE [Suspect]
     Active Substance: HYDROXYCHLOROQUINE DIPHOSPHATE
     Route: 065
  973. HYDROXYCHLOROQUINE DIPHOSPHATE [Suspect]
     Active Substance: HYDROXYCHLOROQUINE DIPHOSPHATE
  974. RIBOFLAVIN [Suspect]
     Active Substance: RIBOFLAVIN
  975. RIBOFLAVIN [Suspect]
     Active Substance: RIBOFLAVIN
     Route: 065
  976. RIBOFLAVIN [Suspect]
     Active Substance: RIBOFLAVIN
  977. ZINC [Suspect]
     Active Substance: ZINC
     Route: 040
  978. ZINC [Suspect]
     Active Substance: ZINC
  979. HYDROCORTISONE PROBUTATE [Suspect]
     Active Substance: HYDROCORTISONE PROBUTATE
     Route: 065
  980. HYDROCORTISONE PROBUTATE [Suspect]
     Active Substance: HYDROCORTISONE PROBUTATE
  981. INFLIXIMAB [Suspect]
     Active Substance: INFLIXIMAB
     Indication: Rheumatoid arthritis
  982. INFLIXIMAB [Suspect]
     Active Substance: INFLIXIMAB
  983. INFLIXIMAB [Suspect]
     Active Substance: INFLIXIMAB
  984. INFLIXIMAB [Suspect]
     Active Substance: INFLIXIMAB
  985. INFLIXIMAB [Suspect]
     Active Substance: INFLIXIMAB
  986. INFLIXIMAB [Suspect]
     Active Substance: INFLIXIMAB
  987. INFLIXIMAB [Suspect]
     Active Substance: INFLIXIMAB
  988. INFLIXIMAB [Suspect]
     Active Substance: INFLIXIMAB
  989. INFLIXIMAB [Suspect]
     Active Substance: INFLIXIMAB
  990. INFLIXIMAB [Suspect]
     Active Substance: INFLIXIMAB
  991. INFLIXIMAB [Suspect]
     Active Substance: INFLIXIMAB
  992. MINOCYCLINE HYDROCHLORIDE [Suspect]
     Active Substance: MINOCYCLINE HYDROCHLORIDE
     Route: 065
  993. MINOCYCLINE HYDROCHLORIDE [Suspect]
     Active Substance: MINOCYCLINE HYDROCHLORIDE
  994. CAFFEINE [Suspect]
     Active Substance: CAFFEINE
     Indication: Rheumatoid arthritis
  995. CAFFEINE [Suspect]
     Active Substance: CAFFEINE
     Route: 065
  996. CAFFEINE [Suspect]
     Active Substance: CAFFEINE
     Route: 065
  997. CAFFEINE [Suspect]
     Active Substance: CAFFEINE
     Route: 065
  998. CAFFEINE [Suspect]
     Active Substance: CAFFEINE
     Route: 065
  999. CAFFEINE [Suspect]
     Active Substance: CAFFEINE
  1000. VITAMIN C [Suspect]
     Active Substance: ASCORBIC ACID
  1001. VITAMIN C [Suspect]
     Active Substance: ASCORBIC ACID
  1002. TUMS ULTRA [Suspect]
     Active Substance: CALCIUM CARBONATE
  1003. TUMS ULTRA [Suspect]
     Active Substance: CALCIUM CARBONATE
  1004. TUMS ULTRA [Suspect]
     Active Substance: CALCIUM CARBONATE
  1005. TUMS ULTRA [Suspect]
     Active Substance: CALCIUM CARBONATE
  1006. BENFOTIAMINE [Suspect]
     Active Substance: BENFOTIAMINE
  1007. DIATRIZOATE MEGLUMINE [Suspect]
     Active Substance: DIATRIZOATE MEGLUMINE
     Route: 040
  1008. DIATRIZOATE MEGLUMINE [Suspect]
     Active Substance: DIATRIZOATE MEGLUMINE
  1009. POVIDONE-IODINE [Suspect]
     Active Substance: POVIDONE-IODINE
  1010. TRUXIMA [Suspect]
     Active Substance: RITUXIMAB-ABBS
     Indication: Rheumatoid arthritis
  1011. TRUXIMA [Suspect]
     Active Substance: RITUXIMAB-ABBS
  1012. TRUXIMA [Suspect]
     Active Substance: RITUXIMAB-ABBS
     Route: 058
  1013. TRUXIMA [Suspect]
     Active Substance: RITUXIMAB-ABBS
     Route: 043
  1014. TRUXIMA [Suspect]
     Active Substance: RITUXIMAB-ABBS
  1015. TRUXIMA [Suspect]
     Active Substance: RITUXIMAB-ABBS
  1016. TRUXIMA [Suspect]
     Active Substance: RITUXIMAB-ABBS
     Route: 040
  1017. TRUXIMA [Suspect]
     Active Substance: RITUXIMAB-ABBS
     Route: 040
  1018. TRUXIMA [Suspect]
     Active Substance: RITUXIMAB-ABBS
  1019. TRUXIMA [Suspect]
     Active Substance: RITUXIMAB-ABBS
  1020. TRUXIMA [Suspect]
     Active Substance: RITUXIMAB-ABBS
  1021. TRUXIMA [Suspect]
     Active Substance: RITUXIMAB-ABBS
  1022. VOLTAREN [Suspect]
     Active Substance: DICLOFENAC SODIUM
     Route: 048
  1023. VOLTAREN [Suspect]
     Active Substance: DICLOFENAC SODIUM
  1024. DESOGESTREL AND ETHINYL ESTRADIOL [Concomitant]
     Active Substance: DESOGESTREL\ETHINYL ESTRADIOL
  1025. DESOGESTREL AND ETHINYL ESTRADIOL [Concomitant]
     Active Substance: DESOGESTREL\ETHINYL ESTRADIOL
  1026. NAPROXEN [Concomitant]
     Active Substance: NAPROXEN
  1027. NAPROXEN [Concomitant]
     Active Substance: NAPROXEN
     Route: 065
  1028. NAPROXEN [Concomitant]
     Active Substance: NAPROXEN

REACTIONS (40)
  - Hypercholesterolaemia [Fatal]
  - Drug intolerance [Fatal]
  - Hypersensitivity [Fatal]
  - Hypertension [Fatal]
  - Gastrooesophageal reflux disease [Fatal]
  - Onychomycosis [Fatal]
  - Pneumonia [Fatal]
  - Maternal exposure during pregnancy [Fatal]
  - Psoriatic arthropathy [Fatal]
  - Rheumatoid arthritis [Fatal]
  - Pemphigus [Fatal]
  - Type 2 diabetes mellitus [Fatal]
  - Systemic lupus erythematosus [Fatal]
  - Pericarditis [Fatal]
  - Depression [Fatal]
  - Paraesthesia [Fatal]
  - Osteoarthritis [Fatal]
  - Blepharospasm [Fatal]
  - Breast cancer stage III [Fatal]
  - Duodenal ulcer perforation [Fatal]
  - Helicobacter infection [Fatal]
  - Epilepsy [Fatal]
  - Fibromyalgia [Fatal]
  - Peripheral venous disease [Fatal]
  - Hepatitis [Fatal]
  - Back injury [Fatal]
  - Injection site reaction [Fatal]
  - Treatment failure [Fatal]
  - Intentional product use issue [Fatal]
  - Contusion [Not Recovered/Not Resolved]
  - Bursitis [Fatal]
  - Delirium [Fatal]
  - Ear pain [Fatal]
  - Crohn^s disease [Fatal]
  - Product label confusion [Fatal]
  - Off label use [Fatal]
  - Underdose [Fatal]
  - Overdose [Not Recovered/Not Resolved]
  - Incorrect product administration duration [Unknown]
  - Hypotension [Unknown]

NARRATIVE: CASE EVENT DATE: 20150818
